FAERS Safety Report 23369170 (Version 5)
Quarter: 2025Q3

REPORT INFORMATION
  Report Type: Spontaneous
  Country: CA (occurrence: CA)
  Receive Date: 20240105
  Receipt Date: 20250717
  Transmission Date: 20251021
  Serious: Yes (Congenital Anomaly)
  Sender: BRISTOL-MYERS SQUIBB COMPANY
  Company Number: CA-BRISTOL-MYERS SQUIBB COMPANY-2023-188761

PATIENT

DRUGS (1178)
  1. ORENCIA [Suspect]
     Active Substance: ABATACEPT
     Indication: Product used for unknown indication
     Route: 064
     Dates: start: 201005, end: 201103
  2. ORENCIA [Suspect]
     Active Substance: ABATACEPT
     Route: 064
  3. ORENCIA [Suspect]
     Active Substance: ABATACEPT
     Route: 064
  4. ORENCIA [Suspect]
     Active Substance: ABATACEPT
     Route: 064
  5. ORENCIA [Suspect]
     Active Substance: ABATACEPT
     Route: 064
  6. ORENCIA [Suspect]
     Active Substance: ABATACEPT
     Route: 064
  7. ORENCIA [Suspect]
     Active Substance: ABATACEPT
     Route: 064
  8. ORENCIA [Suspect]
     Active Substance: ABATACEPT
     Route: 064
  9. ORENCIA [Suspect]
     Active Substance: ABATACEPT
     Route: 064
  10. ORENCIA [Suspect]
     Active Substance: ABATACEPT
     Route: 064
  11. ORENCIA [Suspect]
     Active Substance: ABATACEPT
     Route: 064
  12. ORENCIA [Suspect]
     Active Substance: ABATACEPT
     Route: 064
  13. ORENCIA [Suspect]
     Active Substance: ABATACEPT
     Route: 064
  14. ORENCIA [Suspect]
     Active Substance: ABATACEPT
     Route: 064
  15. ORENCIA [Suspect]
     Active Substance: ABATACEPT
     Route: 064
  16. ORENCIA [Suspect]
     Active Substance: ABATACEPT
     Route: 064
  17. ORENCIA [Suspect]
     Active Substance: ABATACEPT
     Route: 064
  18. ORENCIA [Suspect]
     Active Substance: ABATACEPT
     Route: 064
  19. ORENCIA [Suspect]
     Active Substance: ABATACEPT
     Route: 064
  20. ORENCIA [Suspect]
     Active Substance: ABATACEPT
     Indication: Product used for unknown indication
     Route: 064
  21. ORENCIA [Suspect]
     Active Substance: ABATACEPT
     Route: 064
  22. ORENCIA [Suspect]
     Active Substance: ABATACEPT
     Route: 064
  23. ORENCIA [Suspect]
     Active Substance: ABATACEPT
     Route: 064
  24. ORENCIA [Suspect]
     Active Substance: ABATACEPT
     Route: 064
  25. ORENCIA [Suspect]
     Active Substance: ABATACEPT
     Route: 064
  26. ORENCIA [Suspect]
     Active Substance: ABATACEPT
     Route: 064
  27. ORENCIA [Suspect]
     Active Substance: ABATACEPT
     Route: 064
  28. ORENCIA [Suspect]
     Active Substance: ABATACEPT
     Route: 064
  29. ORENCIA [Suspect]
     Active Substance: ABATACEPT
     Route: 064
  30. ORENCIA [Suspect]
     Active Substance: ABATACEPT
     Route: 064
  31. ORENCIA [Suspect]
     Active Substance: ABATACEPT
     Route: 064
  32. ORENCIA [Suspect]
     Active Substance: ABATACEPT
     Route: 064
  33. ORENCIA [Suspect]
     Active Substance: ABATACEPT
     Route: 064
  34. ORENCIA [Suspect]
     Active Substance: ABATACEPT
     Route: 064
  35. ORENCIA [Suspect]
     Active Substance: ABATACEPT
     Indication: Product used for unknown indication
     Route: 064
  36. ORENCIA [Suspect]
     Active Substance: ABATACEPT
     Route: 064
  37. ORENCIA [Suspect]
     Active Substance: ABATACEPT
     Route: 064
  38. ORENCIA [Suspect]
     Active Substance: ABATACEPT
     Indication: Product used for unknown indication
     Route: 064
  39. ORENCIA [Suspect]
     Active Substance: ABATACEPT
     Route: 064
  40. ORENCIA [Suspect]
     Active Substance: ABATACEPT
     Route: 064
  41. ORENCIA [Suspect]
     Active Substance: ABATACEPT
     Route: 064
  42. ORENCIA [Suspect]
     Active Substance: ABATACEPT
     Indication: Product used for unknown indication
     Route: 064
  43. ORENCIA [Suspect]
     Active Substance: ABATACEPT
     Route: 064
  44. ORENCIA [Suspect]
     Active Substance: ABATACEPT
     Dosage: SOLUTION FOR INJECTION/SOLUTION FOR INFUSION
     Route: 064
  45. ORENCIA [Suspect]
     Active Substance: ABATACEPT
     Route: 064
  46. ORENCIA [Suspect]
     Active Substance: ABATACEPT
     Route: 064
  47. ORENCIA [Suspect]
     Active Substance: ABATACEPT
     Route: 064
  48. ORENCIA [Suspect]
     Active Substance: ABATACEPT
     Route: 064
  49. TRIAMCINOLONE ACETONIDE [Suspect]
     Active Substance: TRIAMCINOLONE ACETONIDE
     Indication: Product used for unknown indication
     Route: 064
  50. TRIAMCINOLONE ACETONIDE [Suspect]
     Active Substance: TRIAMCINOLONE ACETONIDE
     Route: 064
  51. ACETAMINOPHEN [Suspect]
     Active Substance: ACETAMINOPHEN
     Indication: Product used for unknown indication
     Route: 064
  52. INDOMETHACIN [Concomitant]
     Active Substance: INDOMETHACIN
     Indication: Product used for unknown indication
  53. REMICADE [Concomitant]
     Active Substance: INFLIXIMAB
     Indication: Product used for unknown indication
     Route: 064
  54. REMICADE [Concomitant]
     Active Substance: INFLIXIMAB
     Route: 064
  55. REMICADE [Concomitant]
     Active Substance: INFLIXIMAB
     Route: 064
  56. REMICADE [Concomitant]
     Active Substance: INFLIXIMAB
     Route: 064
  57. REMICADE [Concomitant]
     Active Substance: INFLIXIMAB
     Route: 064
  58. REMICADE [Concomitant]
     Active Substance: INFLIXIMAB
     Route: 064
  59. REMICADE [Concomitant]
     Active Substance: INFLIXIMAB
     Route: 064
  60. REMICADE [Concomitant]
     Active Substance: INFLIXIMAB
     Route: 064
  61. REMICADE [Concomitant]
     Active Substance: INFLIXIMAB
     Route: 064
  62. ACTEMRA [Concomitant]
     Active Substance: TOCILIZUMAB
     Indication: Product used for unknown indication
     Route: 064
  63. ACTEMRA [Concomitant]
     Active Substance: TOCILIZUMAB
     Route: 064
  64. ACTEMRA [Concomitant]
     Active Substance: TOCILIZUMAB
     Route: 064
  65. ACTEMRA [Concomitant]
     Active Substance: TOCILIZUMAB
     Route: 064
  66. ACTEMRA [Concomitant]
     Active Substance: TOCILIZUMAB
     Route: 064
  67. ACTEMRA [Concomitant]
     Active Substance: TOCILIZUMAB
     Route: 064
  68. ACTEMRA [Concomitant]
     Active Substance: TOCILIZUMAB
     Route: 064
  69. ACTEMRA [Concomitant]
     Active Substance: TOCILIZUMAB
     Route: 064
  70. ACTEMRA [Concomitant]
     Active Substance: TOCILIZUMAB
     Route: 064
  71. ACTEMRA [Concomitant]
     Active Substance: TOCILIZUMAB
     Route: 064
  72. ACTEMRA [Concomitant]
     Active Substance: TOCILIZUMAB
     Route: 064
  73. ACTEMRA [Concomitant]
     Active Substance: TOCILIZUMAB
     Route: 064
  74. ACTEMRA [Concomitant]
     Active Substance: TOCILIZUMAB
     Route: 064
  75. ACTEMRA [Concomitant]
     Active Substance: TOCILIZUMAB
     Route: 064
  76. ACTEMRA [Concomitant]
     Active Substance: TOCILIZUMAB
     Route: 064
  77. ACTEMRA [Concomitant]
     Active Substance: TOCILIZUMAB
     Route: 064
  78. ACTEMRA [Concomitant]
     Active Substance: TOCILIZUMAB
     Route: 064
  79. ACTEMRA [Concomitant]
     Active Substance: TOCILIZUMAB
     Route: 064
  80. ACTEMRA [Concomitant]
     Active Substance: TOCILIZUMAB
     Route: 064
  81. ACTEMRA [Concomitant]
     Active Substance: TOCILIZUMAB
     Route: 064
  82. ACTEMRA [Concomitant]
     Active Substance: TOCILIZUMAB
     Route: 064
  83. ACTEMRA [Concomitant]
     Active Substance: TOCILIZUMAB
     Route: 064
  84. ACTEMRA [Concomitant]
     Active Substance: TOCILIZUMAB
     Route: 064
  85. ACTEMRA [Concomitant]
     Active Substance: TOCILIZUMAB
     Route: 064
  86. ACTEMRA [Concomitant]
     Active Substance: TOCILIZUMAB
     Route: 064
  87. ACTEMRA [Concomitant]
     Active Substance: TOCILIZUMAB
     Route: 064
  88. ACTEMRA [Concomitant]
     Active Substance: TOCILIZUMAB
     Route: 064
  89. ACTEMRA [Concomitant]
     Active Substance: TOCILIZUMAB
     Route: 064
  90. ACTEMRA [Concomitant]
     Active Substance: TOCILIZUMAB
     Route: 064
  91. ACTEMRA [Concomitant]
     Active Substance: TOCILIZUMAB
     Route: 064
  92. ACTEMRA [Concomitant]
     Active Substance: TOCILIZUMAB
     Dosage: UNK
     Route: 064
  93. ACTEMRA [Concomitant]
     Active Substance: TOCILIZUMAB
     Dosage: UNK
     Route: 064
  94. CIMZIA [Concomitant]
     Active Substance: CERTOLIZUMAB PEGOL
     Indication: Product used for unknown indication
     Route: 064
  95. CIMZIA [Concomitant]
     Active Substance: CERTOLIZUMAB PEGOL
     Dosage: 400 MILLIGRAM, QMO
     Route: 064
  96. CIMZIA [Concomitant]
     Active Substance: CERTOLIZUMAB PEGOL
     Route: 064
  97. CIMZIA [Concomitant]
     Active Substance: CERTOLIZUMAB PEGOL
     Dosage: 1 DOSAGE FORM, QD
     Route: 064
  98. CIMZIA [Concomitant]
     Active Substance: CERTOLIZUMAB PEGOL
     Route: 064
  99. CIMZIA [Concomitant]
     Active Substance: CERTOLIZUMAB PEGOL
     Route: 064
  100. CIMZIA [Concomitant]
     Active Substance: CERTOLIZUMAB PEGOL
     Route: 064
  101. CIMZIA [Concomitant]
     Active Substance: CERTOLIZUMAB PEGOL
     Route: 064
  102. HUMIRA [Concomitant]
     Active Substance: ADALIMUMAB
     Indication: Product used for unknown indication
     Route: 064
  103. HUMIRA [Concomitant]
     Active Substance: ADALIMUMAB
     Route: 064
  104. HUMIRA [Concomitant]
     Active Substance: ADALIMUMAB
     Route: 064
  105. HUMIRA [Concomitant]
     Active Substance: ADALIMUMAB
     Route: 064
  106. HUMIRA [Concomitant]
     Active Substance: ADALIMUMAB
     Route: 064
  107. HUMIRA [Concomitant]
     Active Substance: ADALIMUMAB
     Route: 064
  108. HUMIRA [Concomitant]
     Active Substance: ADALIMUMAB
     Route: 064
  109. HUMIRA [Concomitant]
     Active Substance: ADALIMUMAB
     Route: 064
  110. HUMIRA [Concomitant]
     Active Substance: ADALIMUMAB
     Route: 064
  111. HUMIRA [Concomitant]
     Active Substance: ADALIMUMAB
     Route: 064
  112. HUMIRA [Concomitant]
     Active Substance: ADALIMUMAB
     Route: 064
  113. HUMIRA [Concomitant]
     Active Substance: ADALIMUMAB
     Route: 064
  114. HUMIRA [Concomitant]
     Active Substance: ADALIMUMAB
     Route: 064
  115. HUMIRA [Concomitant]
     Active Substance: ADALIMUMAB
     Route: 064
  116. HUMIRA [Concomitant]
     Active Substance: ADALIMUMAB
     Route: 064
  117. HUMIRA [Concomitant]
     Active Substance: ADALIMUMAB
     Route: 064
  118. HUMIRA [Concomitant]
     Active Substance: ADALIMUMAB
     Route: 064
  119. HUMIRA [Concomitant]
     Active Substance: ADALIMUMAB
     Route: 064
  120. HUMIRA [Concomitant]
     Active Substance: ADALIMUMAB
     Route: 064
  121. HUMIRA [Concomitant]
     Active Substance: ADALIMUMAB
     Route: 064
  122. ENBREL [Concomitant]
     Active Substance: ETANERCEPT
     Indication: Product used for unknown indication
     Route: 064
  123. ENBREL [Concomitant]
     Active Substance: ETANERCEPT
     Dosage: 50 MILLIGRAM, QWK
     Route: 064
  124. ENBREL [Concomitant]
     Active Substance: ETANERCEPT
     Dosage: UNK UNK, QWK
     Route: 064
  125. ENBREL [Concomitant]
     Active Substance: ETANERCEPT
     Route: 064
  126. ENBREL [Concomitant]
     Active Substance: ETANERCEPT
     Route: 064
  127. ENBREL [Concomitant]
     Active Substance: ETANERCEPT
     Route: 064
  128. ENBREL [Concomitant]
     Active Substance: ETANERCEPT
     Route: 064
  129. ENBREL [Concomitant]
     Active Substance: ETANERCEPT
     Route: 064
  130. ENBREL [Concomitant]
     Active Substance: ETANERCEPT
     Route: 064
  131. ENBREL [Concomitant]
     Active Substance: ETANERCEPT
     Route: 064
  132. ENBREL [Concomitant]
     Active Substance: ETANERCEPT
     Route: 064
  133. ENBREL [Concomitant]
     Active Substance: ETANERCEPT
     Route: 064
  134. RITUXAN [Concomitant]
     Active Substance: RITUXIMAB
     Indication: Product used for unknown indication
     Route: 064
  135. RITUXAN [Concomitant]
     Active Substance: RITUXIMAB
     Route: 064
  136. RITUXAN [Concomitant]
     Active Substance: RITUXIMAB
     Route: 064
  137. RITUXAN [Concomitant]
     Active Substance: RITUXIMAB
     Route: 064
  138. ARAVA [Concomitant]
     Active Substance: LEFLUNOMIDE
     Indication: Product used for unknown indication
     Route: 064
  139. ARAVA [Concomitant]
     Active Substance: LEFLUNOMIDE
     Route: 064
  140. ARAVA [Concomitant]
     Active Substance: LEFLUNOMIDE
     Route: 064
  141. ARAVA [Concomitant]
     Active Substance: LEFLUNOMIDE
     Dosage: 20 MILLIGRAM, QD
     Route: 064
  142. ARAVA [Concomitant]
     Active Substance: LEFLUNOMIDE
     Route: 064
  143. ARAVA [Concomitant]
     Active Substance: LEFLUNOMIDE
     Route: 064
  144. ARAVA [Concomitant]
     Active Substance: LEFLUNOMIDE
     Route: 064
  145. ARAVA [Concomitant]
     Active Substance: LEFLUNOMIDE
     Route: 064
  146. ARAVA [Concomitant]
     Active Substance: LEFLUNOMIDE
     Route: 064
  147. HYDROXYCHLOROQUINE DIPHOSPHATE [Concomitant]
     Active Substance: HYDROXYCHLOROQUINE DIPHOSPHATE
     Indication: Product used for unknown indication
     Route: 064
  148. HYDROXYCHLOROQUINE DIPHOSPHATE [Concomitant]
     Active Substance: HYDROXYCHLOROQUINE DIPHOSPHATE
     Route: 064
  149. HYDROXYCHLOROQUINE DIPHOSPHATE [Concomitant]
     Active Substance: HYDROXYCHLOROQUINE DIPHOSPHATE
     Route: 064
  150. HYDROXYCHLOROQUINE DIPHOSPHATE [Concomitant]
     Active Substance: HYDROXYCHLOROQUINE DIPHOSPHATE
     Route: 064
  151. SULFATHALIDINE [Concomitant]
     Active Substance: PHTHALYLSULFATHIAZOLE
     Indication: Product used for unknown indication
     Route: 064
  152. SULFATHALIDINE [Concomitant]
     Active Substance: PHTHALYLSULFATHIAZOLE
     Route: 064
  153. CORTISONE [Concomitant]
     Active Substance: CORTISONE
     Indication: Product used for unknown indication
     Route: 064
  154. CORTISONE [Concomitant]
     Active Substance: CORTISONE
     Route: 064
  155. CORTISONE [Concomitant]
     Active Substance: CORTISONE
     Route: 064
  156. CORTISONE [Concomitant]
     Active Substance: CORTISONE
     Route: 064
  157. CORTISONE [Concomitant]
     Active Substance: CORTISONE
     Route: 064
  158. CORTISONE [Concomitant]
     Active Substance: CORTISONE
     Route: 064
  159. CORTISONE [Concomitant]
     Active Substance: CORTISONE
     Route: 064
  160. CORTISONE [Concomitant]
     Active Substance: CORTISONE
     Route: 064
  161. FOLIC ACID [Concomitant]
     Active Substance: FOLIC ACID
     Indication: Product used for unknown indication
     Route: 064
  162. FOLIC ACID [Concomitant]
     Active Substance: FOLIC ACID
     Route: 064
  163. FOLIC ACID [Concomitant]
     Active Substance: FOLIC ACID
     Route: 064
  164. FOLIC ACID [Concomitant]
     Active Substance: FOLIC ACID
     Route: 064
  165. FOLIC ACID [Concomitant]
     Active Substance: FOLIC ACID
     Route: 064
  166. FOLIC ACID [Concomitant]
     Active Substance: FOLIC ACID
     Route: 064
  167. FOLIC ACID [Concomitant]
     Active Substance: FOLIC ACID
     Route: 064
  168. FOLIC ACID [Concomitant]
     Active Substance: FOLIC ACID
     Route: 064
  169. FOLIC ACID [Concomitant]
     Active Substance: FOLIC ACID
     Route: 064
  170. FOLIC ACID [Concomitant]
     Active Substance: FOLIC ACID
     Route: 064
  171. METHOTREXATE [Concomitant]
     Active Substance: METHOTREXATE
     Indication: Product used for unknown indication
     Route: 064
  172. METHOTREXATE [Concomitant]
     Active Substance: METHOTREXATE
     Dosage: 25 MILLIGRAM, QD
     Route: 064
  173. METHOTREXATE [Concomitant]
     Active Substance: METHOTREXATE
     Dosage: 1 GRAM, BID
     Route: 064
  174. METHOTREXATE [Concomitant]
     Active Substance: METHOTREXATE
     Route: 064
  175. METHOTREXATE [Concomitant]
     Active Substance: METHOTREXATE
     Route: 064
  176. METHOTREXATE [Concomitant]
     Active Substance: METHOTREXATE
     Route: 064
  177. METHOTREXATE [Concomitant]
     Active Substance: METHOTREXATE
     Route: 064
  178. METHOTREXATE [Concomitant]
     Active Substance: METHOTREXATE
     Route: 064
  179. METHOTREXATE [Concomitant]
     Active Substance: METHOTREXATE
     Route: 064
  180. METHOTREXATE [Concomitant]
     Active Substance: METHOTREXATE
     Route: 064
  181. METHOTREXATE [Concomitant]
     Active Substance: METHOTREXATE
     Route: 064
  182. PREDNISONE [Concomitant]
     Active Substance: PREDNISONE
     Indication: Product used for unknown indication
     Route: 064
  183. PREDNISONE [Concomitant]
     Active Substance: PREDNISONE
     Route: 064
  184. PREDNISONE [Concomitant]
     Active Substance: PREDNISONE
     Route: 064
  185. PREDNISONE [Concomitant]
     Active Substance: PREDNISONE
     Route: 064
  186. PREDNISONE [Concomitant]
     Active Substance: PREDNISONE
     Route: 064
  187. PREDNISONE [Concomitant]
     Active Substance: PREDNISONE
     Route: 064
  188. PREDNISONE [Concomitant]
     Active Substance: PREDNISONE
     Route: 064
  189. PREDNISONE [Concomitant]
     Active Substance: PREDNISONE
     Route: 064
  190. PREDNISONE [Concomitant]
     Active Substance: PREDNISONE
     Route: 064
  191. PREDNISONE [Concomitant]
     Active Substance: PREDNISONE
     Route: 064
  192. PREDNISONE [Concomitant]
     Active Substance: PREDNISONE
     Route: 064
  193. PREDNISONE [Concomitant]
     Active Substance: PREDNISONE
     Route: 064
  194. PREDNISONE [Concomitant]
     Active Substance: PREDNISONE
     Route: 064
  195. PREDNISONE [Concomitant]
     Active Substance: PREDNISONE
     Route: 064
  196. PREDNISONE [Concomitant]
     Active Substance: PREDNISONE
     Route: 064
  197. PREDNISONE [Concomitant]
     Active Substance: PREDNISONE
     Route: 064
  198. FOSAMAX [Concomitant]
     Active Substance: ALENDRONATE SODIUM
     Indication: Product used for unknown indication
     Route: 064
  199. FOSAMAX [Concomitant]
     Active Substance: ALENDRONATE SODIUM
     Route: 064
  200. FOSAMAX [Concomitant]
     Active Substance: ALENDRONATE SODIUM
     Route: 064
  201. FOSAMAX [Concomitant]
     Active Substance: ALENDRONATE SODIUM
     Route: 064
  202. FOSAMAX [Concomitant]
     Active Substance: ALENDRONATE SODIUM
     Route: 064
  203. FOSAMAX [Concomitant]
     Active Substance: ALENDRONATE SODIUM
     Route: 064
  204. CETIRIZINE HYDROCHLORIDE [Concomitant]
     Active Substance: CETIRIZINE HYDROCHLORIDE
     Indication: Product used for unknown indication
     Route: 064
  205. CETIRIZINE HYDROCHLORIDE [Concomitant]
     Active Substance: CETIRIZINE HYDROCHLORIDE
     Route: 064
  206. CETIRIZINE HYDROCHLORIDE [Concomitant]
     Active Substance: CETIRIZINE HYDROCHLORIDE
     Route: 064
  207. CETIRIZINE HYDROCHLORIDE [Concomitant]
     Active Substance: CETIRIZINE HYDROCHLORIDE
     Route: 064
  208. CETIRIZINE HYDROCHLORIDE [Concomitant]
     Active Substance: CETIRIZINE HYDROCHLORIDE
     Route: 064
  209. CETIRIZINE HYDROCHLORIDE [Concomitant]
     Active Substance: CETIRIZINE HYDROCHLORIDE
     Route: 064
  210. CETIRIZINE HYDROCHLORIDE [Concomitant]
     Active Substance: CETIRIZINE HYDROCHLORIDE
     Route: 064
  211. CETIRIZINE HYDROCHLORIDE [Concomitant]
     Active Substance: CETIRIZINE HYDROCHLORIDE
     Route: 064
  212. CETIRIZINE HYDROCHLORIDE [Concomitant]
     Active Substance: CETIRIZINE HYDROCHLORIDE
     Route: 064
  213. HYDROXYCHLOROQUINE [Concomitant]
     Active Substance: HYDROXYCHLOROQUINE
     Indication: Product used for unknown indication
     Route: 064
  214. HYDROXYCHLOROQUINE [Concomitant]
     Active Substance: HYDROXYCHLOROQUINE
     Route: 064
  215. HYDROXYCHLOROQUINE [Concomitant]
     Active Substance: HYDROXYCHLOROQUINE
     Route: 064
  216. SIMPONI [Concomitant]
     Active Substance: GOLIMUMAB
     Indication: Product used for unknown indication
     Route: 064
  217. SIMPONI [Concomitant]
     Active Substance: GOLIMUMAB
     Route: 064
  218. SIMPONI [Concomitant]
     Active Substance: GOLIMUMAB
     Route: 064
  219. SIMPONI [Concomitant]
     Active Substance: GOLIMUMAB
     Route: 064
  220. SIMPONI [Concomitant]
     Active Substance: GOLIMUMAB
     Route: 064
  221. SIMPONI [Concomitant]
     Active Substance: GOLIMUMAB
     Route: 064
  222. SIMPONI [Concomitant]
     Active Substance: GOLIMUMAB
     Route: 064
  223. SIMPONI [Concomitant]
     Active Substance: GOLIMUMAB
     Route: 064
  224. SIMPONI [Concomitant]
     Active Substance: GOLIMUMAB
     Route: 064
  225. DESOXIMETASONE [Concomitant]
     Active Substance: DESOXIMETASONE
     Indication: Product used for unknown indication
     Route: 064
  226. DESOXIMETASONE [Concomitant]
     Active Substance: DESOXIMETASONE
     Route: 064
  227. DESOXIMETASONE [Concomitant]
     Active Substance: DESOXIMETASONE
     Dosage: 25 MILLIGRAM
     Route: 064
  228. DESOXIMETASONE [Concomitant]
     Active Substance: DESOXIMETASONE
     Route: 064
  229. DESOXIMETASONE [Concomitant]
     Active Substance: DESOXIMETASONE
     Route: 064
  230. DESOXIMETASONE [Concomitant]
     Active Substance: DESOXIMETASONE
     Route: 064
  231. DESOXIMETASONE [Concomitant]
     Active Substance: DESOXIMETASONE
     Route: 064
  232. DESOXIMETASONE [Concomitant]
     Active Substance: DESOXIMETASONE
     Route: 064
  233. SULFASALAZINE [Concomitant]
     Active Substance: SULFASALAZINE
     Indication: Product used for unknown indication
     Route: 064
  234. SULFASALAZINE [Concomitant]
     Active Substance: SULFASALAZINE
     Dosage: 1 G, BID
     Route: 064
  235. SULFASALAZINE [Concomitant]
     Active Substance: SULFASALAZINE
     Dosage: 1 G, BID
     Route: 064
  236. SULFASALAZINE [Concomitant]
     Active Substance: SULFASALAZINE
     Dosage: UNK
     Route: 064
  237. SULFASALAZINE [Concomitant]
     Active Substance: SULFASALAZINE
     Route: 064
  238. SULFASALAZINE [Concomitant]
     Active Substance: SULFASALAZINE
     Route: 064
  239. SULFASALAZINE [Concomitant]
     Active Substance: SULFASALAZINE
     Route: 064
  240. SULFASALAZINE [Concomitant]
     Active Substance: SULFASALAZINE
     Route: 064
  241. SULFASALAZINE [Concomitant]
     Active Substance: SULFASALAZINE
     Route: 064
  242. SULFASALAZINE [Concomitant]
     Active Substance: SULFASALAZINE
     Route: 064
  243. SULFASALAZINE [Concomitant]
     Active Substance: SULFASALAZINE
     Route: 064
  244. SULFASALAZINE [Concomitant]
     Active Substance: SULFASALAZINE
     Route: 064
  245. SULFASALAZINE [Concomitant]
     Active Substance: SULFASALAZINE
     Route: 064
  246. SULFASALAZINE [Concomitant]
     Active Substance: SULFASALAZINE
     Route: 064
  247. SULFASALAZINE [Concomitant]
     Active Substance: SULFASALAZINE
     Route: 064
  248. SULFASALAZINE [Concomitant]
     Active Substance: SULFASALAZINE
     Route: 064
  249. SULFASALAZINE [Concomitant]
     Active Substance: SULFASALAZINE
     Route: 064
  250. SULFASALAZINE [Concomitant]
     Active Substance: SULFASALAZINE
     Route: 064
  251. SULFASALAZINE [Concomitant]
     Active Substance: SULFASALAZINE
     Route: 064
  252. SULFASALAZINE [Concomitant]
     Active Substance: SULFASALAZINE
     Route: 064
  253. CETIRIZINE HYDROCHLORIDE [Concomitant]
     Active Substance: CETIRIZINE HYDROCHLORIDE
     Indication: Product used for unknown indication
     Route: 064
  254. CETIRIZINE HYDROCHLORIDE [Concomitant]
     Active Substance: CETIRIZINE HYDROCHLORIDE
     Route: 064
  255. CETIRIZINE HYDROCHLORIDE [Concomitant]
     Active Substance: CETIRIZINE HYDROCHLORIDE
     Route: 064
  256. CETIRIZINE HYDROCHLORIDE [Concomitant]
     Active Substance: CETIRIZINE HYDROCHLORIDE
     Route: 064
  257. CETIRIZINE HYDROCHLORIDE [Concomitant]
     Active Substance: CETIRIZINE HYDROCHLORIDE
     Route: 064
  258. HYDROXYCHLOROQUINE [Concomitant]
     Active Substance: HYDROXYCHLOROQUINE
     Indication: Product used for unknown indication
     Route: 064
  259. HYDROXYCHLOROQUINE [Concomitant]
     Active Substance: HYDROXYCHLOROQUINE
     Route: 064
  260. HYDROXYCHLOROQUINE [Concomitant]
     Active Substance: HYDROXYCHLOROQUINE
     Route: 064
  261. HYDROXYCHLOROQUINE [Concomitant]
     Active Substance: HYDROXYCHLOROQUINE
     Route: 064
  262. HYDROXYCHLOROQUINE [Concomitant]
     Active Substance: HYDROXYCHLOROQUINE
     Route: 064
  263. HYDROXYCHLOROQUINE [Concomitant]
     Active Substance: HYDROXYCHLOROQUINE
     Route: 064
  264. HYDROXYCHLOROQUINE [Concomitant]
     Active Substance: HYDROXYCHLOROQUINE
     Route: 064
  265. HYDROXYCHLOROQUINE [Concomitant]
     Active Substance: HYDROXYCHLOROQUINE
     Route: 064
  266. HYDROXYCHLOROQUINE [Concomitant]
     Active Substance: HYDROXYCHLOROQUINE
     Route: 064
  267. HYDROXYCHLOROQUINE [Concomitant]
     Active Substance: HYDROXYCHLOROQUINE
     Route: 064
  268. HYDROXYCHLOROQUINE [Concomitant]
     Active Substance: HYDROXYCHLOROQUINE
     Route: 064
  269. HYDROXYCHLOROQUINE [Concomitant]
     Active Substance: HYDROXYCHLOROQUINE
     Route: 064
  270. METHOTREXATE [Concomitant]
     Active Substance: METHOTREXATE
     Indication: Product used for unknown indication
     Route: 064
  271. METHOTREXATE [Concomitant]
     Active Substance: METHOTREXATE
     Dosage: 20 MILLIGRAM, QD
     Route: 064
  272. METHOTREXATE [Concomitant]
     Active Substance: METHOTREXATE
     Route: 064
  273. METHOTREXATE [Concomitant]
     Active Substance: METHOTREXATE
     Route: 064
  274. METHOTREXATE [Concomitant]
     Active Substance: METHOTREXATE
     Route: 064
  275. METHOTREXATE [Concomitant]
     Active Substance: METHOTREXATE
     Route: 064
  276. METHOTREXATE [Concomitant]
     Active Substance: METHOTREXATE
     Dosage: 25 MILLIGRAM
     Route: 064
  277. METHOTREXATE [Concomitant]
     Active Substance: METHOTREXATE
     Route: 064
  278. METHOTREXATE [Concomitant]
     Active Substance: METHOTREXATE
     Route: 064
  279. METHOTREXATE [Concomitant]
     Active Substance: METHOTREXATE
     Dosage: 25 MILLIGRAM, QWK
     Route: 064
  280. METHOTREXATE [Concomitant]
     Active Substance: METHOTREXATE
     Route: 064
  281. METHOTREXATE [Concomitant]
     Active Substance: METHOTREXATE
     Route: 064
  282. METHOTREXATE [Concomitant]
     Active Substance: METHOTREXATE
     Route: 064
  283. METHOTREXATE [Concomitant]
     Active Substance: METHOTREXATE
     Route: 064
  284. METHOTREXATE [Concomitant]
     Active Substance: METHOTREXATE
     Route: 064
  285. METHOTREXATE [Concomitant]
     Active Substance: METHOTREXATE
     Route: 064
  286. METHOTREXATE [Concomitant]
     Active Substance: METHOTREXATE
     Route: 064
  287. METHOTREXATE [Concomitant]
     Active Substance: METHOTREXATE
     Route: 064
  288. HYDROXYCHLOROQUINE DIPHOSPHATE [Concomitant]
     Active Substance: HYDROXYCHLOROQUINE DIPHOSPHATE
     Indication: Product used for unknown indication
     Route: 064
  289. HYDROXYCHLOROQUINE DIPHOSPHATE [Concomitant]
     Active Substance: HYDROXYCHLOROQUINE DIPHOSPHATE
     Route: 064
  290. HYDROXYCHLOROQUINE DIPHOSPHATE [Concomitant]
     Active Substance: HYDROXYCHLOROQUINE DIPHOSPHATE
     Dosage: 400 MILLIGRAM, QD
     Route: 064
  291. HYDROXYCHLOROQUINE DIPHOSPHATE [Concomitant]
     Active Substance: HYDROXYCHLOROQUINE DIPHOSPHATE
     Dosage: UNK
     Route: 064
  292. HYDROCORTISONE ACETATE [Concomitant]
     Active Substance: HYDROCORTISONE ACETATE
     Indication: Product used for unknown indication
     Route: 064
  293. HYDROCORTISONE ACETATE [Concomitant]
     Active Substance: HYDROCORTISONE ACETATE
     Route: 064
  294. HYDROCORTISONE ACETATE [Concomitant]
     Active Substance: HYDROCORTISONE ACETATE
     Route: 064
  295. HYDROCORTISONE ACETATE [Concomitant]
     Active Substance: HYDROCORTISONE ACETATE
     Route: 064
  296. HYDROCORTISONE ACETATE [Concomitant]
     Active Substance: HYDROCORTISONE ACETATE
     Route: 064
  297. HYDROCORTISONE ACETATE [Concomitant]
     Active Substance: HYDROCORTISONE ACETATE
     Route: 064
  298. HYDROCORTISONE ACETATE [Concomitant]
     Active Substance: HYDROCORTISONE ACETATE
     Route: 064
  299. HYDROCORTISONE ACETATE [Concomitant]
     Active Substance: HYDROCORTISONE ACETATE
     Route: 064
  300. HYDROCORTISONE ACETATE [Concomitant]
     Active Substance: HYDROCORTISONE ACETATE
     Route: 064
  301. HYDROCORTISONE ACETATE [Concomitant]
     Active Substance: HYDROCORTISONE ACETATE
     Route: 064
  302. HYDROCORTISONE ACETATE [Concomitant]
     Active Substance: HYDROCORTISONE ACETATE
     Route: 064
  303. HYDROCORTISONE ACETATE [Concomitant]
     Active Substance: HYDROCORTISONE ACETATE
     Route: 064
  304. PHTHALYLSULFATHIAZOLE [Concomitant]
     Active Substance: PHTHALYLSULFATHIAZOLE
     Indication: Product used for unknown indication
     Route: 064
  305. PHTHALYLSULFATHIAZOLE [Concomitant]
     Active Substance: PHTHALYLSULFATHIAZOLE
     Route: 064
  306. PHTHALYLSULFATHIAZOLE [Concomitant]
     Active Substance: PHTHALYLSULFATHIAZOLE
     Route: 064
  307. PHTHALYLSULFATHIAZOLE [Concomitant]
     Active Substance: PHTHALYLSULFATHIAZOLE
     Route: 064
  308. PHTHALYLSULFATHIAZOLE [Concomitant]
     Active Substance: PHTHALYLSULFATHIAZOLE
     Dosage: 1000 MILLIGRAM, BID
     Route: 064
  309. PHTHALYLSULFATHIAZOLE [Concomitant]
     Active Substance: PHTHALYLSULFATHIAZOLE
     Route: 064
  310. PHTHALYLSULFATHIAZOLE [Concomitant]
     Active Substance: PHTHALYLSULFATHIAZOLE
     Route: 064
  311. PHTHALYLSULFATHIAZOLE [Concomitant]
     Active Substance: PHTHALYLSULFATHIAZOLE
     Route: 064
  312. PHTHALYLSULFATHIAZOLE [Concomitant]
     Active Substance: PHTHALYLSULFATHIAZOLE
     Route: 064
  313. PHTHALYLSULFATHIAZOLE [Concomitant]
     Active Substance: PHTHALYLSULFATHIAZOLE
     Route: 064
  314. PHTHALYLSULFATHIAZOLE [Concomitant]
     Active Substance: PHTHALYLSULFATHIAZOLE
     Route: 064
  315. PHTHALYLSULFATHIAZOLE [Concomitant]
     Active Substance: PHTHALYLSULFATHIAZOLE
     Route: 064
  316. PHTHALYLSULFATHIAZOLE [Concomitant]
     Active Substance: PHTHALYLSULFATHIAZOLE
     Route: 064
  317. PHTHALYLSULFATHIAZOLE [Concomitant]
     Active Substance: PHTHALYLSULFATHIAZOLE
     Route: 064
  318. PHTHALYLSULFATHIAZOLE [Concomitant]
     Active Substance: PHTHALYLSULFATHIAZOLE
     Route: 064
  319. PHTHALYLSULFATHIAZOLE [Concomitant]
     Active Substance: PHTHALYLSULFATHIAZOLE
     Route: 064
  320. PHTHALYLSULFATHIAZOLE [Concomitant]
     Active Substance: PHTHALYLSULFATHIAZOLE
     Route: 064
  321. PHTHALYLSULFATHIAZOLE [Concomitant]
     Active Substance: PHTHALYLSULFATHIAZOLE
     Route: 064
  322. PHTHALYLSULFATHIAZOLE [Concomitant]
     Active Substance: PHTHALYLSULFATHIAZOLE
     Route: 064
  323. LEFLUNOMIDE [Concomitant]
     Active Substance: LEFLUNOMIDE
     Indication: Product used for unknown indication
     Route: 064
  324. LEFLUNOMIDE [Concomitant]
     Active Substance: LEFLUNOMIDE
     Route: 064
  325. LEFLUNOMIDE [Concomitant]
     Active Substance: LEFLUNOMIDE
     Route: 064
  326. LEFLUNOMIDE [Concomitant]
     Active Substance: LEFLUNOMIDE
     Route: 064
  327. LEFLUNOMIDE [Concomitant]
     Active Substance: LEFLUNOMIDE
     Route: 064
  328. LEFLUNOMIDE [Concomitant]
     Active Substance: LEFLUNOMIDE
     Route: 064
  329. LEFLUNOMIDE [Concomitant]
     Active Substance: LEFLUNOMIDE
     Route: 064
  330. LEFLUNOMIDE [Concomitant]
     Active Substance: LEFLUNOMIDE
     Route: 064
  331. HUMIRA [Concomitant]
     Active Substance: ADALIMUMAB
     Indication: Product used for unknown indication
     Route: 064
  332. HUMIRA [Concomitant]
     Active Substance: ADALIMUMAB
     Route: 064
  333. HUMIRA [Concomitant]
     Active Substance: ADALIMUMAB
     Route: 064
  334. HUMIRA [Concomitant]
     Active Substance: ADALIMUMAB
     Route: 064
  335. HUMIRA [Concomitant]
     Active Substance: ADALIMUMAB
     Route: 064
  336. HUMIRA [Concomitant]
     Active Substance: ADALIMUMAB
     Route: 064
  337. HUMIRA [Concomitant]
     Active Substance: ADALIMUMAB
     Route: 064
  338. HUMIRA [Concomitant]
     Active Substance: ADALIMUMAB
     Route: 064
  339. HUMIRA [Concomitant]
     Active Substance: ADALIMUMAB
     Route: 064
  340. HUMIRA [Concomitant]
     Active Substance: ADALIMUMAB
     Route: 064
  341. XELJANZ [Concomitant]
     Active Substance: TOFACITINIB CITRATE
     Indication: Product used for unknown indication
     Route: 064
  342. XELJANZ [Concomitant]
     Active Substance: TOFACITINIB CITRATE
     Dosage: 5 MILLIGRAM, BID
     Route: 064
  343. XELJANZ [Concomitant]
     Active Substance: TOFACITINIB CITRATE
     Route: 064
  344. XELJANZ [Concomitant]
     Active Substance: TOFACITINIB CITRATE
     Route: 064
  345. XELJANZ [Concomitant]
     Active Substance: TOFACITINIB CITRATE
     Route: 064
  346. XELJANZ [Concomitant]
     Active Substance: TOFACITINIB CITRATE
     Route: 064
  347. XELJANZ [Concomitant]
     Active Substance: TOFACITINIB CITRATE
     Route: 064
  348. XELJANZ [Concomitant]
     Active Substance: TOFACITINIB CITRATE
     Route: 064
  349. XELJANZ [Concomitant]
     Active Substance: TOFACITINIB CITRATE
     Route: 064
  350. XELJANZ [Concomitant]
     Active Substance: TOFACITINIB CITRATE
     Route: 064
  351. XELJANZ [Concomitant]
     Active Substance: TOFACITINIB CITRATE
     Route: 064
  352. XELJANZ [Concomitant]
     Active Substance: TOFACITINIB CITRATE
     Route: 064
  353. XELJANZ [Concomitant]
     Active Substance: TOFACITINIB CITRATE
     Route: 064
  354. XELJANZ [Concomitant]
     Active Substance: TOFACITINIB CITRATE
     Route: 064
  355. XELJANZ [Concomitant]
     Active Substance: TOFACITINIB CITRATE
     Route: 064
  356. XELJANZ [Concomitant]
     Active Substance: TOFACITINIB CITRATE
     Route: 064
  357. XELJANZ [Concomitant]
     Active Substance: TOFACITINIB CITRATE
     Route: 064
  358. XELJANZ [Concomitant]
     Active Substance: TOFACITINIB CITRATE
     Route: 064
  359. XELJANZ [Concomitant]
     Active Substance: TOFACITINIB CITRATE
     Route: 064
  360. XELJANZ [Concomitant]
     Active Substance: TOFACITINIB CITRATE
     Route: 064
  361. XELJANZ [Concomitant]
     Active Substance: TOFACITINIB CITRATE
     Route: 064
  362. XELJANZ [Concomitant]
     Active Substance: TOFACITINIB CITRATE
     Route: 064
  363. ACETAMINOPHEN [Concomitant]
     Active Substance: ACETAMINOPHEN
     Indication: Product used for unknown indication
     Route: 064
  364. ACETAMINOPHEN [Concomitant]
     Active Substance: ACETAMINOPHEN
     Route: 064
  365. ACETAMINOPHEN [Concomitant]
     Active Substance: ACETAMINOPHEN
     Route: 064
  366. ACETAMINOPHEN [Concomitant]
     Active Substance: ACETAMINOPHEN
     Route: 064
  367. HUMIRA [Concomitant]
     Active Substance: ADALIMUMAB
     Indication: Product used for unknown indication
     Route: 064
  368. ADALIMUMAB [Concomitant]
     Active Substance: ADALIMUMAB
     Indication: Product used for unknown indication
     Route: 064
  369. ADALIMUMAB [Concomitant]
     Active Substance: ADALIMUMAB
     Route: 064
  370. ADALIMUMAB [Concomitant]
     Active Substance: ADALIMUMAB
     Route: 064
  371. ADALIMUMAB [Concomitant]
     Active Substance: ADALIMUMAB
     Route: 064
  372. ADALIMUMAB [Concomitant]
     Active Substance: ADALIMUMAB
     Route: 064
  373. ADALIMUMAB [Concomitant]
     Active Substance: ADALIMUMAB
     Route: 064
  374. CELEBREX [Concomitant]
     Active Substance: CELECOXIB
     Indication: Product used for unknown indication
     Route: 064
  375. CELEBREX [Concomitant]
     Active Substance: CELECOXIB
     Route: 064
  376. CELEBREX [Concomitant]
     Active Substance: CELECOXIB
     Route: 064
  377. CELEBREX [Concomitant]
     Active Substance: CELECOXIB
     Route: 064
  378. CELEBREX [Concomitant]
     Active Substance: CELECOXIB
     Route: 064
  379. ALENDRONATE SODIUM [Concomitant]
     Active Substance: ALENDRONATE SODIUM
     Indication: Product used for unknown indication
     Route: 064
  380. ALENDRONATE SODIUM [Concomitant]
     Active Substance: ALENDRONATE SODIUM
     Route: 064
  381. ALENDRONATE SODIUM [Concomitant]
     Active Substance: ALENDRONATE SODIUM
     Route: 064
  382. ALENDRONATE SODIUM [Concomitant]
     Active Substance: ALENDRONATE SODIUM
     Route: 064
  383. ALENDRONATE SODIUM [Concomitant]
     Active Substance: ALENDRONATE SODIUM
     Route: 064
  384. ALENDRONATE SODIUM [Concomitant]
     Active Substance: ALENDRONATE SODIUM
     Route: 064
  385. ALENDRONATE SODIUM [Concomitant]
     Active Substance: ALENDRONATE SODIUM
     Route: 064
  386. ALENDRONATE SODIUM [Concomitant]
     Active Substance: ALENDRONATE SODIUM
     Route: 064
  387. FOLIC ACID [Concomitant]
     Active Substance: FOLIC ACID
     Indication: Product used for unknown indication
     Route: 064
  388. FOLIC ACID [Concomitant]
     Active Substance: FOLIC ACID
     Route: 064
  389. FOLIC ACID [Concomitant]
     Active Substance: FOLIC ACID
     Route: 064
  390. HYDROXYCHLOROQUINE SULFATE [Concomitant]
     Active Substance: HYDROXYCHLOROQUINE SULFATE
     Indication: Product used for unknown indication
     Route: 064
  391. HYDROXYCHLOROQUINE SULFATE [Concomitant]
     Active Substance: HYDROXYCHLOROQUINE SULFATE
     Dosage: 400 MILLIGRAM, QD
     Route: 064
  392. LEFLUNOMIDE [Concomitant]
     Active Substance: LEFLUNOMIDE
     Indication: Product used for unknown indication
     Route: 064
  393. LEFLUNOMIDE [Concomitant]
     Active Substance: LEFLUNOMIDE
     Route: 064
  394. CETIRIZINE HYDROCHLORIDE\PSEUDOEPHEDRINE HYDROCHLORIDE [Concomitant]
     Active Substance: CETIRIZINE HYDROCHLORIDE\PSEUDOEPHEDRINE HYDROCHLORIDE
     Indication: Product used for unknown indication
     Route: 064
  395. PREDNISONE [Concomitant]
     Active Substance: PREDNISONE
     Indication: Product used for unknown indication
     Route: 064
  396. PREDNISONE [Concomitant]
     Active Substance: PREDNISONE
     Route: 064
  397. PREDNISONE [Concomitant]
     Active Substance: PREDNISONE
     Route: 064
  398. PREDNISONE [Concomitant]
     Active Substance: PREDNISONE
     Route: 064
  399. PREDNISONE [Concomitant]
     Active Substance: PREDNISONE
     Route: 064
  400. PREDNISONE [Concomitant]
     Active Substance: PREDNISONE
     Route: 064
  401. PREDNISONE [Concomitant]
     Active Substance: PREDNISONE
     Route: 064
  402. PREDNISONE [Concomitant]
     Active Substance: PREDNISONE
     Route: 064
  403. PREDNISONE [Concomitant]
     Active Substance: PREDNISONE
     Route: 064
  404. PREDNISONE [Concomitant]
     Active Substance: PREDNISONE
     Route: 064
  405. CIMZIA [Concomitant]
     Active Substance: CERTOLIZUMAB PEGOL
     Indication: Product used for unknown indication
     Route: 064
  406. CIMZIA [Concomitant]
     Active Substance: CERTOLIZUMAB PEGOL
     Route: 064
  407. CERTOLIZUMAB PEGOL [Concomitant]
     Active Substance: CERTOLIZUMAB PEGOL
     Indication: Product used for unknown indication
     Route: 064
  408. CETIRIZINE HYDROCHLORIDE [Concomitant]
     Active Substance: CETIRIZINE HYDROCHLORIDE
     Indication: Product used for unknown indication
     Route: 064
  409. CETIRIZINE HYDROCHLORIDE [Concomitant]
     Active Substance: CETIRIZINE HYDROCHLORIDE
     Route: 064
  410. CETIRIZINE HYDROCHLORIDE [Concomitant]
     Active Substance: CETIRIZINE HYDROCHLORIDE
     Dosage: 10 MILLIGRAM
     Route: 064
  411. CETIRIZINE HYDROCHLORIDE [Concomitant]
     Active Substance: CETIRIZINE HYDROCHLORIDE
     Route: 064
  412. CETIRIZINE HYDROCHLORIDE [Concomitant]
     Active Substance: CETIRIZINE HYDROCHLORIDE
     Route: 064
  413. CETIRIZINE HYDROCHLORIDE [Concomitant]
     Active Substance: CETIRIZINE HYDROCHLORIDE
     Route: 064
  414. CETIRIZINE HYDROCHLORIDE [Concomitant]
     Active Substance: CETIRIZINE HYDROCHLORIDE
     Route: 064
  415. CETIRIZINE [Concomitant]
     Active Substance: CETIRIZINE HYDROCHLORIDE
     Indication: Product used for unknown indication
     Route: 064
  416. CETIRIZINE [Concomitant]
     Active Substance: CETIRIZINE HYDROCHLORIDE
     Route: 064
  417. CETIRIZINE [Concomitant]
     Active Substance: CETIRIZINE HYDROCHLORIDE
     Route: 064
  418. CETIRIZINE [Concomitant]
     Active Substance: CETIRIZINE HYDROCHLORIDE
     Route: 064
  419. CETIRIZINE [Concomitant]
     Active Substance: CETIRIZINE HYDROCHLORIDE
     Route: 064
  420. CETIRIZINE [Concomitant]
     Active Substance: CETIRIZINE HYDROCHLORIDE
     Route: 064
  421. CETIRIZINE [Concomitant]
     Active Substance: CETIRIZINE HYDROCHLORIDE
     Route: 064
  422. CETIRIZINE [Concomitant]
     Active Substance: CETIRIZINE HYDROCHLORIDE
     Route: 064
  423. CETIRIZINE [Concomitant]
     Active Substance: CETIRIZINE HYDROCHLORIDE
     Route: 064
  424. CETIRIZINE [Concomitant]
     Active Substance: CETIRIZINE HYDROCHLORIDE
     Route: 064
  425. CETIRIZINE [Concomitant]
     Active Substance: CETIRIZINE HYDROCHLORIDE
     Route: 064
  426. ZYRTEC [Concomitant]
     Active Substance: CETIRIZINE HYDROCHLORIDE
     Indication: Product used for unknown indication
     Route: 064
  427. CETIRIZINE HYDROCHLORIDE\PSEUDOEPHEDRINE HYDROCHLORIDE [Concomitant]
     Active Substance: CETIRIZINE HYDROCHLORIDE\PSEUDOEPHEDRINE HYDROCHLORIDE
     Indication: Product used for unknown indication
     Route: 064
  428. CETIRIZINE HYDROCHLORIDE\PSEUDOEPHEDRINE HYDROCHLORIDE [Concomitant]
     Active Substance: CETIRIZINE HYDROCHLORIDE\PSEUDOEPHEDRINE HYDROCHLORIDE
     Route: 064
  429. CETIRIZINE HYDROCHLORIDE\PSEUDOEPHEDRINE HYDROCHLORIDE [Concomitant]
     Active Substance: CETIRIZINE HYDROCHLORIDE\PSEUDOEPHEDRINE HYDROCHLORIDE
     Indication: Product used for unknown indication
     Route: 064
  430. CETIRIZINE HYDROCHLORIDE [Concomitant]
     Active Substance: CETIRIZINE HYDROCHLORIDE
     Indication: Product used for unknown indication
     Route: 064
  431. CETIRIZINE HYDROCHLORIDE [Concomitant]
     Active Substance: CETIRIZINE HYDROCHLORIDE
     Route: 064
  432. CETIRIZINE HYDROCHLORIDE [Concomitant]
     Active Substance: CETIRIZINE HYDROCHLORIDE
     Route: 064
  433. CETIRIZINE HYDROCHLORIDE [Concomitant]
     Active Substance: CETIRIZINE HYDROCHLORIDE
     Dosage: UNK
     Route: 064
  434. CETIRIZINE HYDROCHLORIDE [Concomitant]
     Active Substance: CETIRIZINE HYDROCHLORIDE
     Dosage: UNK
     Route: 064
  435. CETIRIZINE HYDROCHLORIDE [Concomitant]
     Active Substance: CETIRIZINE HYDROCHLORIDE
     Route: 064
  436. CETIRIZINE HYDROCHLORIDE [Concomitant]
     Active Substance: CETIRIZINE HYDROCHLORIDE
     Route: 064
  437. CETIRIZINE HYDROCHLORIDE [Concomitant]
     Active Substance: CETIRIZINE HYDROCHLORIDE
     Route: 064
  438. CETIRIZINE HYDROCHLORIDE [Concomitant]
     Active Substance: CETIRIZINE HYDROCHLORIDE
     Route: 064
  439. CETIRIZINE HYDROCHLORIDE [Concomitant]
     Active Substance: CETIRIZINE HYDROCHLORIDE
     Route: 064
  440. CETIRIZINE HYDROCHLORIDE [Concomitant]
     Active Substance: CETIRIZINE HYDROCHLORIDE
     Route: 064
  441. CETIRIZINE HYDROCHLORIDE [Concomitant]
     Active Substance: CETIRIZINE HYDROCHLORIDE
     Route: 064
  442. CETIRIZINE HYDROCHLORIDE [Concomitant]
     Active Substance: CETIRIZINE HYDROCHLORIDE
     Route: 064
  443. CETIRIZINE HYDROCHLORIDE [Concomitant]
     Active Substance: CETIRIZINE HYDROCHLORIDE
     Route: 064
  444. CETIRIZINE HYDROCHLORIDE [Concomitant]
     Active Substance: CETIRIZINE HYDROCHLORIDE
     Route: 064
  445. CETIRIZINE HYDROCHLORIDE [Concomitant]
     Active Substance: CETIRIZINE HYDROCHLORIDE
     Route: 064
  446. CETIRIZINE HYDROCHLORIDE [Concomitant]
     Active Substance: CETIRIZINE HYDROCHLORIDE
     Route: 064
  447. CETIRIZINE\IBUPROFEN\PHENYLEPHRINE [Concomitant]
     Active Substance: CETIRIZINE\IBUPROFEN\PHENYLEPHRINE
     Indication: Product used for unknown indication
     Route: 064
  448. CETIRIZINE\IBUPROFEN\PHENYLEPHRINE [Concomitant]
     Active Substance: CETIRIZINE\IBUPROFEN\PHENYLEPHRINE
     Route: 064
  449. CORTISONE [Concomitant]
     Active Substance: CORTISONE
     Indication: Product used for unknown indication
     Route: 064
  450. CORTISONE [Concomitant]
     Active Substance: CORTISONE
     Route: 064
  451. CORTISONE [Concomitant]
     Active Substance: CORTISONE
     Route: 064
  452. CORTISONE [Concomitant]
     Active Substance: CORTISONE
     Route: 064
  453. CORTISONE [Concomitant]
     Active Substance: CORTISONE
     Route: 064
  454. CORTISONE [Concomitant]
     Active Substance: CORTISONE
     Route: 064
  455. CORTISONE ACETATE [Concomitant]
     Active Substance: CORTISONE ACETATE
     Indication: Product used for unknown indication
     Route: 064
  456. CORTISONE ACETATE [Concomitant]
     Active Substance: CORTISONE ACETATE
     Route: 064
  457. CORTISONE ACETATE [Concomitant]
     Active Substance: CORTISONE ACETATE
     Route: 064
  458. CORTISONE ACETATE [Concomitant]
     Active Substance: CORTISONE ACETATE
     Route: 064
  459. CORTISONE ACETATE [Concomitant]
     Active Substance: CORTISONE ACETATE
     Route: 064
  460. CORTISONE ACETATE [Concomitant]
     Active Substance: CORTISONE ACETATE
     Route: 064
  461. CORTISONE ACETATE [Concomitant]
     Active Substance: CORTISONE ACETATE
     Route: 064
  462. CORTISONE ACETATE [Concomitant]
     Active Substance: CORTISONE ACETATE
     Route: 064
  463. CORTISONE ACETATE [Concomitant]
     Active Substance: CORTISONE ACETATE
     Route: 064
  464. CORTISONE ACETATE [Concomitant]
     Active Substance: CORTISONE ACETATE
     Route: 064
  465. CORTISONE ACETATE [Concomitant]
     Active Substance: CORTISONE ACETATE
     Route: 064
  466. CORTISONE ACETATE [Concomitant]
     Active Substance: CORTISONE ACETATE
     Route: 064
  467. CORTISONE ACETATE [Concomitant]
     Active Substance: CORTISONE ACETATE
     Route: 064
  468. NAPROXEN SODIUM [Concomitant]
     Active Substance: NAPROXEN SODIUM
     Indication: Product used for unknown indication
     Dosage: UNK, QD
     Route: 064
  469. NAPROXEN SODIUM [Concomitant]
     Active Substance: NAPROXEN SODIUM
     Route: 064
  470. NAPROXEN SODIUM [Concomitant]
     Active Substance: NAPROXEN SODIUM
     Route: 064
  471. NAPROXEN SODIUM [Concomitant]
     Active Substance: NAPROXEN SODIUM
     Route: 064
  472. NAPROXEN SODIUM [Concomitant]
     Active Substance: NAPROXEN SODIUM
     Route: 064
  473. COSENTYX [Concomitant]
     Active Substance: SECUKINUMAB
     Indication: Product used for unknown indication
     Route: 064
  474. COSENTYX [Concomitant]
     Active Substance: SECUKINUMAB
     Route: 064
  475. COSENTYX [Concomitant]
     Active Substance: SECUKINUMAB
     Route: 064
  476. COSENTYX [Concomitant]
     Active Substance: SECUKINUMAB
     Route: 064
  477. COSENTYX [Concomitant]
     Active Substance: SECUKINUMAB
     Route: 064
  478. DESOXIMETASONE [Concomitant]
     Active Substance: DESOXIMETASONE
     Indication: Product used for unknown indication
     Route: 064
  479. DESOXIMETASONE [Concomitant]
     Active Substance: DESOXIMETASONE
     Route: 064
  480. DESOXIMETASONE [Concomitant]
     Active Substance: DESOXIMETASONE
     Route: 064
  481. DESOXIMETASONE [Concomitant]
     Active Substance: DESOXIMETASONE
     Route: 064
  482. DESOXIMETASONE [Concomitant]
     Active Substance: DESOXIMETASONE
     Dosage: 25 MILLIGRAM, QWK
     Route: 064
  483. DESOXIMETASONE [Concomitant]
     Active Substance: DESOXIMETASONE
     Route: 064
  484. DESOXIMETASONE [Concomitant]
     Active Substance: DESOXIMETASONE
     Route: 064
  485. DESOXIMETASONE [Concomitant]
     Active Substance: DESOXIMETASONE
     Route: 064
  486. DESOXIMETASONE [Concomitant]
     Active Substance: DESOXIMETASONE
     Route: 064
  487. DESOXIMETASONE [Concomitant]
     Active Substance: DESOXIMETASONE
     Route: 064
  488. DESOXIMETASONE [Concomitant]
     Active Substance: DESOXIMETASONE
     Route: 064
  489. DESOXIMETASONE [Concomitant]
     Active Substance: DESOXIMETASONE
     Route: 064
  490. DESOXIMETASONE [Concomitant]
     Active Substance: DESOXIMETASONE
     Route: 064
  491. DESOXIMETASONE [Concomitant]
     Active Substance: DESOXIMETASONE
     Route: 064
  492. DESOXIMETASONE [Concomitant]
     Active Substance: DESOXIMETASONE
     Route: 064
  493. DESOXIMETASONE [Concomitant]
     Active Substance: DESOXIMETASONE
     Route: 064
  494. DESOXIMETASONE [Concomitant]
     Active Substance: DESOXIMETASONE
     Route: 064
  495. DESOXIMETASONE [Concomitant]
     Active Substance: DESOXIMETASONE
     Route: 064
  496. DESOXIMETASONE [Concomitant]
     Active Substance: DESOXIMETASONE
     Route: 064
  497. DESOXIMETASONE [Concomitant]
     Active Substance: DESOXIMETASONE
     Route: 064
  498. DESOXIMETASONE [Concomitant]
     Active Substance: DESOXIMETASONE
     Route: 064
  499. DESOXIMETASONE [Concomitant]
     Active Substance: DESOXIMETASONE
     Route: 064
  500. DESOXIMETASONE [Concomitant]
     Active Substance: DESOXIMETASONE
     Route: 064
  501. DESOXIMETASONE [Concomitant]
     Active Substance: DESOXIMETASONE
     Route: 064
  502. DESOXIMETASONE [Concomitant]
     Active Substance: DESOXIMETASONE
     Route: 064
  503. DESOXIMETASONE [Concomitant]
     Active Substance: DESOXIMETASONE
     Route: 064
  504. DESOXIMETASONE [Concomitant]
     Active Substance: DESOXIMETASONE
     Route: 064
  505. DESOXIMETASONE [Concomitant]
     Active Substance: DESOXIMETASONE
     Route: 064
  506. DESOXIMETASONE [Concomitant]
     Active Substance: DESOXIMETASONE
     Route: 064
  507. DESOXIMETASONE [Concomitant]
     Active Substance: DESOXIMETASONE
     Route: 064
  508. DESOXIMETASONE [Concomitant]
     Active Substance: DESOXIMETASONE
     Route: 064
  509. DESOXIMETASONE [Concomitant]
     Active Substance: DESOXIMETASONE
     Indication: Product used for unknown indication
     Route: 064
  510. DICLOFENAC [Concomitant]
     Active Substance: DICLOFENAC
     Indication: Product used for unknown indication
     Route: 064
  511. DICLOFENAC [Concomitant]
     Active Substance: DICLOFENAC
     Route: 064
  512. DICLOFENAC [Concomitant]
     Active Substance: DICLOFENAC
     Route: 064
  513. DICLOFENAC SODIUM [Concomitant]
     Active Substance: DICLOFENAC SODIUM
     Indication: Product used for unknown indication
     Route: 064
  514. DICLOFENAC SODIUM [Concomitant]
     Active Substance: DICLOFENAC SODIUM
     Route: 064
  515. DICLOFENAC SODIUM [Concomitant]
     Active Substance: DICLOFENAC SODIUM
     Route: 064
  516. DICLOFENAC SODIUM [Concomitant]
     Active Substance: DICLOFENAC SODIUM
     Route: 064
  517. DICLOFENAC SODIUM [Concomitant]
     Active Substance: DICLOFENAC SODIUM
     Route: 064
  518. DICLOFENAC SODIUM [Concomitant]
     Active Substance: DICLOFENAC SODIUM
     Route: 064
  519. DICLOFENAC SODIUM [Concomitant]
     Active Substance: DICLOFENAC SODIUM
     Route: 064
  520. DICLOFENAC SODIUM [Concomitant]
     Active Substance: DICLOFENAC SODIUM
     Route: 064
  521. DICLOFENAC SODIUM [Concomitant]
     Active Substance: DICLOFENAC SODIUM
     Route: 064
  522. DICLOFENAC SODIUM [Concomitant]
     Active Substance: DICLOFENAC SODIUM
     Route: 064
  523. DICLOFENAC SODIUM [Concomitant]
     Active Substance: DICLOFENAC SODIUM
     Route: 064
  524. DICLOFENAC SODIUM [Concomitant]
     Active Substance: DICLOFENAC SODIUM
     Route: 064
  525. ETANERCEPT [Concomitant]
     Active Substance: ETANERCEPT
     Indication: Product used for unknown indication
     Route: 064
  526. ETANERCEPT [Concomitant]
     Active Substance: ETANERCEPT
     Route: 064
  527. ETANERCEPT [Concomitant]
     Active Substance: ETANERCEPT
     Route: 064
  528. ENBREL [Concomitant]
     Active Substance: ETANERCEPT
     Indication: Product used for unknown indication
     Route: 064
  529. ENBREL [Concomitant]
     Active Substance: ETANERCEPT
     Route: 064
  530. ENBREL [Concomitant]
     Active Substance: ETANERCEPT
     Route: 064
  531. ENBREL [Concomitant]
     Active Substance: ETANERCEPT
     Route: 064
  532. ENBREL [Concomitant]
     Active Substance: ETANERCEPT
     Route: 064
  533. ENBREL [Concomitant]
     Active Substance: ETANERCEPT
     Route: 064
  534. ENBREL [Concomitant]
     Active Substance: ETANERCEPT
     Route: 064
  535. ENBREL [Concomitant]
     Active Substance: ETANERCEPT
     Route: 064
  536. ENBREL [Concomitant]
     Active Substance: ETANERCEPT
     Route: 064
  537. ERELZI [Concomitant]
     Active Substance: ETANERCEPT-SZZS
     Indication: Product used for unknown indication
     Route: 064
  538. ERELZI [Concomitant]
     Active Substance: ETANERCEPT-SZZS
     Route: 064
  539. ERELZI [Concomitant]
     Active Substance: ETANERCEPT-SZZS
     Route: 064
  540. ERELZI [Concomitant]
     Active Substance: ETANERCEPT-SZZS
     Route: 064
  541. FOLIC ACID [Concomitant]
     Active Substance: FOLIC ACID
     Indication: Product used for unknown indication
     Route: 064
  542. FOLIC ACID [Concomitant]
     Active Substance: FOLIC ACID
     Route: 064
  543. FOLIC ACID [Concomitant]
     Active Substance: FOLIC ACID
     Route: 064
  544. FOLIC ACID [Concomitant]
     Active Substance: FOLIC ACID
     Route: 064
  545. FOLIC ACID [Concomitant]
     Active Substance: FOLIC ACID
     Route: 064
  546. FOLIC ACID [Concomitant]
     Active Substance: FOLIC ACID
     Route: 064
  547. FOLIC ACID [Concomitant]
     Active Substance: FOLIC ACID
     Route: 064
  548. FOLIC ACID [Concomitant]
     Active Substance: FOLIC ACID
     Route: 064
  549. FOLIC ACID [Concomitant]
     Active Substance: FOLIC ACID
     Route: 064
  550. FOLIC ACID [Concomitant]
     Active Substance: FOLIC ACID
     Route: 064
  551. FOLIC ACID [Concomitant]
     Active Substance: FOLIC ACID
     Route: 064
  552. FOLIC ACID [Concomitant]
     Active Substance: FOLIC ACID
     Route: 064
  553. FOLIC ACID [Concomitant]
     Active Substance: FOLIC ACID
     Route: 064
  554. FOLIC ACID [Concomitant]
     Active Substance: FOLIC ACID
     Route: 064
  555. FOLIC ACID [Concomitant]
     Active Substance: FOLIC ACID
     Route: 064
  556. FOLIC ACID [Concomitant]
     Active Substance: FOLIC ACID
     Route: 064
  557. FOLIC ACID [Concomitant]
     Active Substance: FOLIC ACID
     Route: 064
  558. FOLIC ACID [Concomitant]
     Active Substance: FOLIC ACID
     Route: 064
  559. FOLIC ACID [Concomitant]
     Active Substance: FOLIC ACID
     Route: 064
  560. FOLIC ACID [Concomitant]
     Active Substance: FOLIC ACID
     Route: 064
  561. FOLIC ACID [Concomitant]
     Active Substance: FOLIC ACID
     Route: 064
  562. FOLIC ACID [Concomitant]
     Active Substance: FOLIC ACID
     Route: 064
  563. FOLIC ACID [Concomitant]
     Active Substance: FOLIC ACID
     Route: 064
  564. FOLIC ACID [Concomitant]
     Active Substance: FOLIC ACID
     Route: 064
  565. FOLIC ACID [Concomitant]
     Active Substance: FOLIC ACID
     Route: 064
  566. GOLIMUMAB [Concomitant]
     Active Substance: GOLIMUMAB
     Indication: Product used for unknown indication
     Route: 064
  567. GOLIMUMAB [Concomitant]
     Active Substance: GOLIMUMAB
     Route: 064
  568. SIMPONI [Concomitant]
     Active Substance: GOLIMUMAB
     Indication: Product used for unknown indication
     Route: 064
  569. SIMPONI [Concomitant]
     Active Substance: GOLIMUMAB
     Route: 064
  570. SIMPONI [Concomitant]
     Active Substance: GOLIMUMAB
     Route: 064
  571. SIMPONI [Concomitant]
     Active Substance: GOLIMUMAB
     Route: 064
  572. SIMPONI [Concomitant]
     Active Substance: GOLIMUMAB
     Route: 064
  573. SIMPONI [Concomitant]
     Active Substance: GOLIMUMAB
     Route: 064
  574. SIMPONI [Concomitant]
     Active Substance: GOLIMUMAB
     Route: 064
  575. SIMPONI [Concomitant]
     Active Substance: GOLIMUMAB
     Route: 064
  576. SIMPONI [Concomitant]
     Active Substance: GOLIMUMAB
     Route: 064
  577. SIMPONI [Concomitant]
     Active Substance: GOLIMUMAB
     Route: 064
  578. HYDROCORTISONE ACETATE [Concomitant]
     Active Substance: HYDROCORTISONE ACETATE
     Indication: Product used for unknown indication
     Route: 064
  579. HYDROCORTISONE ACETATE [Concomitant]
     Active Substance: HYDROCORTISONE ACETATE
     Route: 064
  580. HYDROCORTISONE ACETATE [Concomitant]
     Active Substance: HYDROCORTISONE ACETATE
     Route: 064
  581. HYDROCORTISONE ACETATE [Concomitant]
     Active Substance: HYDROCORTISONE ACETATE
     Indication: Product used for unknown indication
     Route: 064
  582. HYDROCORTISONE ACETATE [Concomitant]
     Active Substance: HYDROCORTISONE ACETATE
     Route: 064
  583. HYDROCORTISONE ACETATE [Concomitant]
     Active Substance: HYDROCORTISONE ACETATE
     Route: 064
  584. HYDROCORTISONE ACETATE [Concomitant]
     Active Substance: HYDROCORTISONE ACETATE
     Route: 064
  585. HYDROCORTISONE ACETATE [Concomitant]
     Active Substance: HYDROCORTISONE ACETATE
     Route: 064
  586. HYDROCORTISONE ACETATE [Concomitant]
     Active Substance: HYDROCORTISONE ACETATE
     Route: 064
  587. HYDROCORTISONE ACETATE [Concomitant]
     Active Substance: HYDROCORTISONE ACETATE
     Route: 064
  588. HYDROCORTISONE ACETATE [Concomitant]
     Active Substance: HYDROCORTISONE ACETATE
     Route: 064
  589. HYDROCORTISONE ACETATE [Concomitant]
     Active Substance: HYDROCORTISONE ACETATE
     Route: 064
  590. HYDROXYCHLOROQUINE SULFATE [Concomitant]
     Active Substance: HYDROXYCHLOROQUINE SULFATE
     Indication: Product used for unknown indication
     Route: 064
  591. HYDROXYCHLOROQUINE SULFATE [Concomitant]
     Active Substance: HYDROXYCHLOROQUINE SULFATE
     Route: 064
  592. HYDROXYCHLOROQUINE SULFATE [Concomitant]
     Active Substance: HYDROXYCHLOROQUINE SULFATE
     Route: 064
     Dates: start: 2006
  593. HYDROXYCHLOROQUINE SULFATE [Concomitant]
     Active Substance: HYDROXYCHLOROQUINE SULFATE
     Route: 064
     Dates: start: 2006
  594. HYDROXYCHLOROQUINE SULFATE [Concomitant]
     Active Substance: HYDROXYCHLOROQUINE SULFATE
     Route: 064
  595. HYDROXYCHLOROQUINE SULFATE [Concomitant]
     Active Substance: HYDROXYCHLOROQUINE SULFATE
     Dosage: 400 MILLIGRAM, QD
     Route: 064
  596. HYDROXYCHLOROQUINE SULFATE [Concomitant]
     Active Substance: HYDROXYCHLOROQUINE SULFATE
     Route: 064
  597. HYDROXYCHLOROQUINE SULFATE [Concomitant]
     Active Substance: HYDROXYCHLOROQUINE SULFATE
     Route: 064
  598. HYDROXYCHLOROQUINE SULFATE [Concomitant]
     Active Substance: HYDROXYCHLOROQUINE SULFATE
     Dosage: 4000 MILLIGRAM, QD
     Route: 064
  599. HYDROXYCHLOROQUINE SULFATE [Concomitant]
     Active Substance: HYDROXYCHLOROQUINE SULFATE
     Route: 064
  600. HYDROXYCHLOROQUINE SULFATE [Concomitant]
     Active Substance: HYDROXYCHLOROQUINE SULFATE
     Route: 064
  601. HYDROXYCHLOROQUINE SULFATE [Concomitant]
     Active Substance: HYDROXYCHLOROQUINE SULFATE
     Route: 064
  602. HYDROXYCHLOROQUINE SULFATE [Concomitant]
     Active Substance: HYDROXYCHLOROQUINE SULFATE
     Route: 064
  603. HYDROXYCHLOROQUINE SULFATE [Concomitant]
     Active Substance: HYDROXYCHLOROQUINE SULFATE
     Route: 064
  604. HYDROXYCHLOROQUINE SULFATE [Concomitant]
     Active Substance: HYDROXYCHLOROQUINE SULFATE
     Route: 064
  605. HYDROXYCHLOROQUINE SULFATE [Concomitant]
     Active Substance: HYDROXYCHLOROQUINE SULFATE
     Route: 064
  606. HYDROXYCHLOROQUINE SULFATE [Concomitant]
     Active Substance: HYDROXYCHLOROQUINE SULFATE
     Route: 064
  607. HYDROXYCHLOROQUINE SULFATE [Concomitant]
     Active Substance: HYDROXYCHLOROQUINE SULFATE
     Route: 064
  608. HYDROXYCHLOROQUINE SULFATE [Concomitant]
     Active Substance: HYDROXYCHLOROQUINE SULFATE
     Route: 064
  609. HYDROXYCHLOROQUINE SULFATE [Concomitant]
     Active Substance: HYDROXYCHLOROQUINE SULFATE
     Route: 064
  610. HYDROXYCHLOROQUINE SULFATE [Concomitant]
     Active Substance: HYDROXYCHLOROQUINE SULFATE
     Route: 064
  611. HYDROXYCHLOROQUINE SULFATE [Concomitant]
     Active Substance: HYDROXYCHLOROQUINE SULFATE
     Route: 064
  612. HYDROXYCHLOROQUINE DIPHOSPHATE [Concomitant]
     Active Substance: HYDROXYCHLOROQUINE DIPHOSPHATE
     Indication: Product used for unknown indication
     Route: 064
  613. HYDROXYCHLOROQUINE DIPHOSPHATE [Concomitant]
     Active Substance: HYDROXYCHLOROQUINE DIPHOSPHATE
     Indication: Product used for unknown indication
     Route: 064
  614. PLAQUENIL [Concomitant]
     Active Substance: HYDROXYCHLOROQUINE SULFATE
     Indication: Product used for unknown indication
     Route: 064
  615. PLAQUENIL [Concomitant]
     Active Substance: HYDROXYCHLOROQUINE SULFATE
     Dosage: 400 MILLIGRAM, QD
     Route: 064
  616. PLAQUENIL [Concomitant]
     Active Substance: HYDROXYCHLOROQUINE SULFATE
     Route: 064
  617. PLAQUENIL [Concomitant]
     Active Substance: HYDROXYCHLOROQUINE SULFATE
     Dosage: 40 MILLIGRAM, QD
     Route: 064
  618. PLAQUENIL [Concomitant]
     Active Substance: HYDROXYCHLOROQUINE SULFATE
     Dosage: 40 MILLIGRAM, QD
     Route: 064
  619. PLAQUENIL [Concomitant]
     Active Substance: HYDROXYCHLOROQUINE SULFATE
     Route: 064
  620. PLAQUENIL [Concomitant]
     Active Substance: HYDROXYCHLOROQUINE SULFATE
     Route: 064
  621. KEVZARA [Concomitant]
     Active Substance: SARILUMAB
     Indication: Product used for unknown indication
     Route: 064
  622. KEVZARA [Concomitant]
     Active Substance: SARILUMAB
     Route: 064
  623. KEVZARA [Concomitant]
     Active Substance: SARILUMAB
     Route: 064
  624. KEVZARA [Concomitant]
     Active Substance: SARILUMAB
     Route: 064
  625. KEVZARA [Concomitant]
     Active Substance: SARILUMAB
     Route: 064
  626. ARAVA [Concomitant]
     Active Substance: LEFLUNOMIDE
     Indication: Product used for unknown indication
     Route: 064
  627. ARAVA [Concomitant]
     Active Substance: LEFLUNOMIDE
     Route: 064
  628. ARAVA [Concomitant]
     Active Substance: LEFLUNOMIDE
     Route: 064
  629. ARAVA [Concomitant]
     Active Substance: LEFLUNOMIDE
     Route: 064
  630. ARAVA [Concomitant]
     Active Substance: LEFLUNOMIDE
     Route: 064
  631. ARAVA [Concomitant]
     Active Substance: LEFLUNOMIDE
     Route: 064
  632. METHOTREXATE [Concomitant]
     Active Substance: METHOTREXATE
     Indication: Product used for unknown indication
     Route: 064
  633. METHOTREXATE [Concomitant]
     Active Substance: METHOTREXATE
     Dosage: UNK UNK, QD
     Route: 064
  634. METHOTREXATE [Concomitant]
     Active Substance: METHOTREXATE
     Route: 064
  635. METHOTREXATE [Concomitant]
     Active Substance: METHOTREXATE
     Route: 064
  636. METHOTREXATE [Concomitant]
     Active Substance: METHOTREXATE
     Route: 064
  637. METHOTREXATE [Concomitant]
     Active Substance: METHOTREXATE
     Route: 064
  638. METHOTREXATE [Concomitant]
     Active Substance: METHOTREXATE
     Route: 064
  639. METHOTREXATE [Concomitant]
     Active Substance: METHOTREXATE
     Route: 064
  640. METHOTREXATE [Concomitant]
     Active Substance: METHOTREXATE
     Route: 064
  641. METHOTREXATE [Concomitant]
     Active Substance: METHOTREXATE
     Route: 064
  642. METHOTREXATE [Concomitant]
     Active Substance: METHOTREXATE
     Route: 064
  643. METHOTREXATE [Concomitant]
     Active Substance: METHOTREXATE
     Route: 064
  644. METHOTREXATE [Concomitant]
     Active Substance: METHOTREXATE
     Route: 064
  645. METHOTREXATE [Concomitant]
     Active Substance: METHOTREXATE
     Route: 064
  646. METHOTREXATE [Concomitant]
     Active Substance: METHOTREXATE
     Route: 064
  647. METHOTREXATE SODIUM [Concomitant]
     Active Substance: METHOTREXATE SODIUM
     Indication: Product used for unknown indication
     Route: 064
     Dates: start: 2006, end: 2016
  648. METHOTREXATE SODIUM [Concomitant]
     Active Substance: METHOTREXATE SODIUM
     Route: 064
  649. METHOTREXATE SODIUM [Concomitant]
     Active Substance: METHOTREXATE SODIUM
     Route: 064
  650. METHOTREXATE SODIUM [Concomitant]
     Active Substance: METHOTREXATE SODIUM
     Route: 064
  651. METHOTREXATE SODIUM [Concomitant]
     Active Substance: METHOTREXATE SODIUM
     Route: 064
  652. METHOTREXATE SODIUM [Concomitant]
     Active Substance: METHOTREXATE SODIUM
     Route: 064
  653. METHOTREXATE SODIUM [Concomitant]
     Active Substance: METHOTREXATE SODIUM
     Route: 064
  654. METHOTREXATE SODIUM [Concomitant]
     Active Substance: METHOTREXATE SODIUM
     Route: 064
  655. METHOTREXATE SODIUM [Concomitant]
     Active Substance: METHOTREXATE SODIUM
     Route: 064
  656. METHOTREXATE SODIUM [Concomitant]
     Active Substance: METHOTREXATE SODIUM
     Route: 064
  657. METHOTREXATE SODIUM [Concomitant]
     Active Substance: METHOTREXATE SODIUM
     Route: 064
  658. METHOTREXATE SODIUM [Concomitant]
     Active Substance: METHOTREXATE SODIUM
     Route: 064
  659. METHOTREXATE SODIUM [Concomitant]
     Active Substance: METHOTREXATE SODIUM
     Route: 064
  660. METHOTREXATE SODIUM [Concomitant]
     Active Substance: METHOTREXATE SODIUM
     Route: 064
  661. METHOTREXATE SODIUM [Concomitant]
     Active Substance: METHOTREXATE SODIUM
     Route: 064
  662. METHOTREXATE SODIUM [Concomitant]
     Active Substance: METHOTREXATE SODIUM
     Route: 064
  663. METHOTREXATE SODIUM [Concomitant]
     Active Substance: METHOTREXATE SODIUM
     Route: 064
  664. SULFATHALIDINE [Concomitant]
     Active Substance: PHTHALYLSULFATHIAZOLE
     Indication: Product used for unknown indication
     Route: 064
  665. PREDNISONE [Concomitant]
     Active Substance: PREDNISONE
     Indication: Product used for unknown indication
     Route: 064
  666. PREDNISONE [Concomitant]
     Active Substance: PREDNISONE
     Route: 064
  667. PREDNISONE [Concomitant]
     Active Substance: PREDNISONE
     Route: 064
  668. PREDNISONE [Concomitant]
     Active Substance: PREDNISONE
     Route: 064
  669. PREDNISONE [Concomitant]
     Active Substance: PREDNISONE
     Route: 064
  670. PREDNISONE [Concomitant]
     Active Substance: PREDNISONE
     Route: 064
  671. PREDNISONE [Concomitant]
     Active Substance: PREDNISONE
     Indication: Product used for unknown indication
     Route: 064
  672. PREDNISONE [Concomitant]
     Active Substance: PREDNISONE
     Route: 064
  673. PSEUDOEPHEDRINE HYDROCHLORIDE [Concomitant]
     Active Substance: PSEUDOEPHEDRINE HYDROCHLORIDE
     Indication: Product used for unknown indication
     Route: 064
  674. PSEUDOEPHEDRINE HYDROCHLORIDE [Concomitant]
     Active Substance: PSEUDOEPHEDRINE HYDROCHLORIDE
     Route: 064
  675. PSEUDOEPHEDRINE HYDROCHLORIDE [Concomitant]
     Active Substance: PSEUDOEPHEDRINE HYDROCHLORIDE
     Route: 064
  676. PSEUDOEPHEDRINE HYDROCHLORIDE [Concomitant]
     Active Substance: PSEUDOEPHEDRINE HYDROCHLORIDE
     Route: 064
  677. PSEUDOEPHEDRINE HYDROCHLORIDE [Concomitant]
     Active Substance: PSEUDOEPHEDRINE HYDROCHLORIDE
     Route: 064
  678. PSEUDOEPHEDRINE HYDROCHLORIDE [Concomitant]
     Active Substance: PSEUDOEPHEDRINE HYDROCHLORIDE
     Route: 064
  679. PSEUDOEPHEDRINE HYDROCHLORIDE [Concomitant]
     Active Substance: PSEUDOEPHEDRINE HYDROCHLORIDE
     Route: 064
  680. PSEUDOEPHEDRINE HYDROCHLORIDE [Concomitant]
     Active Substance: PSEUDOEPHEDRINE HYDROCHLORIDE
     Route: 064
  681. PSEUDOEPHEDRINE HYDROCHLORIDE [Concomitant]
     Active Substance: PSEUDOEPHEDRINE HYDROCHLORIDE
     Route: 064
  682. PSEUDOEPHEDRINE HYDROCHLORIDE [Concomitant]
     Active Substance: PSEUDOEPHEDRINE HYDROCHLORIDE
     Route: 064
  683. RITUXAN [Concomitant]
     Active Substance: RITUXIMAB
     Indication: Product used for unknown indication
     Route: 064
  684. RITUXAN [Concomitant]
     Active Substance: RITUXIMAB
     Route: 064
  685. RITUXIMAB [Concomitant]
     Active Substance: RITUXIMAB
     Indication: Product used for unknown indication
     Route: 064
  686. RITUXIMAB [Concomitant]
     Active Substance: RITUXIMAB
     Route: 064
  687. RITUXIMAB [Concomitant]
     Active Substance: RITUXIMAB
     Route: 064
  688. RITUXIMAB [Concomitant]
     Active Substance: RITUXIMAB
     Route: 064
  689. RITUXIMAB [Concomitant]
     Active Substance: RITUXIMAB
     Route: 064
  690. RITUXIMAB [Concomitant]
     Active Substance: RITUXIMAB
     Route: 064
  691. RITUXIMAB [Concomitant]
     Active Substance: RITUXIMAB
     Route: 064
  692. RITUXIMAB [Concomitant]
     Active Substance: RITUXIMAB
     Route: 064
  693. RITUXIMAB [Concomitant]
     Active Substance: RITUXIMAB
     Route: 064
  694. RITUXIMAB [Concomitant]
     Active Substance: RITUXIMAB
     Route: 064
  695. RITUXIMAB [Concomitant]
     Active Substance: RITUXIMAB
     Route: 064
  696. RITUXIMAB [Concomitant]
     Active Substance: RITUXIMAB
     Route: 064
  697. RITUXIMAB [Concomitant]
     Active Substance: RITUXIMAB
     Route: 064
  698. RITUXIMAB [Concomitant]
     Active Substance: RITUXIMAB
     Route: 064
  699. RITUXIMAB [Concomitant]
     Active Substance: RITUXIMAB
     Route: 064
  700. RITUXIMAB [Concomitant]
     Active Substance: RITUXIMAB
     Route: 064
  701. RITUXIMAB [Concomitant]
     Active Substance: RITUXIMAB
     Route: 064
  702. SARILUMAB [Concomitant]
     Active Substance: SARILUMAB
     Indication: Product used for unknown indication
     Route: 064
  703. STELARA [Concomitant]
     Active Substance: USTEKINUMAB
     Indication: Product used for unknown indication
     Route: 064
  704. STELARA [Concomitant]
     Active Substance: USTEKINUMAB
     Route: 064
  705. STELARA [Concomitant]
     Active Substance: USTEKINUMAB
     Route: 064
  706. STELARA [Concomitant]
     Active Substance: USTEKINUMAB
     Route: 064
  707. STELARA [Concomitant]
     Active Substance: USTEKINUMAB
     Route: 064
  708. STELARA [Concomitant]
     Active Substance: USTEKINUMAB
     Route: 064
  709. STELARA [Concomitant]
     Active Substance: USTEKINUMAB
     Route: 064
  710. STELARA [Concomitant]
     Active Substance: USTEKINUMAB
     Route: 064
  711. STELARA [Concomitant]
     Active Substance: USTEKINUMAB
     Route: 064
  712. STELARA [Concomitant]
     Active Substance: USTEKINUMAB
     Route: 064
  713. STELARA [Concomitant]
     Active Substance: USTEKINUMAB
     Route: 064
  714. STELARA [Concomitant]
     Active Substance: USTEKINUMAB
     Route: 064
  715. SULFASALAZINE [Concomitant]
     Active Substance: SULFASALAZINE
     Indication: Product used for unknown indication
     Route: 064
  716. SULFASALAZINE [Concomitant]
     Active Substance: SULFASALAZINE
     Route: 064
  717. SULFASALAZINE [Concomitant]
     Active Substance: SULFASALAZINE
     Route: 064
  718. SULFASALAZINE [Concomitant]
     Active Substance: SULFASALAZINE
     Route: 064
  719. SULFASALAZINE [Concomitant]
     Active Substance: SULFASALAZINE
     Route: 064
  720. SULFASALAZINE [Concomitant]
     Active Substance: SULFASALAZINE
     Dosage: 1000 MILLIGRAM, BID
     Route: 064
  721. SULFASALAZINE [Concomitant]
     Active Substance: SULFASALAZINE
     Route: 064
  722. SULFASALAZINE [Concomitant]
     Active Substance: SULFASALAZINE
     Route: 064
  723. SULFASALAZINE [Concomitant]
     Active Substance: SULFASALAZINE
     Route: 064
     Dates: start: 2006, end: 2007
  724. SULFASALAZINE [Concomitant]
     Active Substance: SULFASALAZINE
     Route: 064
  725. SULFASALAZINE [Concomitant]
     Active Substance: SULFASALAZINE
     Route: 064
  726. SULFASALAZINE [Concomitant]
     Active Substance: SULFASALAZINE
     Route: 064
  727. SULFASALAZINE [Concomitant]
     Active Substance: SULFASALAZINE
     Route: 064
  728. SULFASALAZINE [Concomitant]
     Active Substance: SULFASALAZINE
     Route: 064
  729. SULFASALAZINE [Concomitant]
     Active Substance: SULFASALAZINE
     Route: 064
  730. SULFASALAZINE [Concomitant]
     Active Substance: SULFASALAZINE
     Route: 064
  731. SULFASALAZINE [Concomitant]
     Active Substance: SULFASALAZINE
     Route: 064
  732. SULFASALAZINE [Concomitant]
     Active Substance: SULFASALAZINE
     Route: 064
  733. SULFASALAZINE [Concomitant]
     Active Substance: SULFASALAZINE
     Route: 064
  734. SULFASALAZINE [Concomitant]
     Active Substance: SULFASALAZINE
     Route: 064
  735. SULFASALAZINE [Concomitant]
     Active Substance: SULFASALAZINE
     Route: 064
  736. SULFASALAZINE [Concomitant]
     Active Substance: SULFASALAZINE
     Route: 064
  737. SULFASALAZINE [Concomitant]
     Active Substance: SULFASALAZINE
     Route: 064
  738. SULFASALAZINE [Concomitant]
     Active Substance: SULFASALAZINE
     Route: 064
  739. SULFASALAZINE [Concomitant]
     Active Substance: SULFASALAZINE
     Route: 064
  740. SULFASALAZINE [Concomitant]
     Active Substance: SULFASALAZINE
     Route: 064
  741. SULFASALAZINE [Concomitant]
     Active Substance: SULFASALAZINE
     Route: 064
  742. SULFASALAZINE [Concomitant]
     Active Substance: SULFASALAZINE
     Route: 064
  743. SULFASALAZINE [Concomitant]
     Active Substance: SULFASALAZINE
     Route: 064
  744. SULFASALAZINE [Concomitant]
     Active Substance: SULFASALAZINE
     Route: 064
  745. SULFASALAZINE [Concomitant]
     Active Substance: SULFASALAZINE
     Route: 064
  746. SULFASALAZINE [Concomitant]
     Active Substance: SULFASALAZINE
     Route: 064
  747. TOCILIZUMAB [Concomitant]
     Active Substance: TOCILIZUMAB
     Indication: Product used for unknown indication
     Route: 064
  748. TOCILIZUMAB [Concomitant]
     Active Substance: TOCILIZUMAB
     Route: 064
  749. TOCILIZUMAB [Concomitant]
     Active Substance: TOCILIZUMAB
     Route: 064
  750. TOCILIZUMAB [Concomitant]
     Active Substance: TOCILIZUMAB
     Route: 064
  751. TOCILIZUMAB [Concomitant]
     Active Substance: TOCILIZUMAB
     Route: 064
  752. TOFACITINIB CITRATE [Concomitant]
     Active Substance: TOFACITINIB CITRATE
     Indication: Product used for unknown indication
     Route: 064
  753. TOFACITINIB CITRATE [Concomitant]
     Active Substance: TOFACITINIB CITRATE
     Route: 064
  754. TOFACITINIB CITRATE [Concomitant]
     Active Substance: TOFACITINIB CITRATE
     Route: 064
  755. TOFACITINIB CITRATE [Concomitant]
     Active Substance: TOFACITINIB CITRATE
     Route: 064
  756. TOFACITINIB CITRATE [Concomitant]
     Active Substance: TOFACITINIB CITRATE
     Route: 064
  757. ALENDRONIC ACID [Concomitant]
     Active Substance: ALENDRONIC ACID
     Indication: Product used for unknown indication
     Route: 064
  758. ALENDRONIC ACID [Concomitant]
     Active Substance: ALENDRONIC ACID
     Route: 064
  759. ALENDRONIC ACID [Concomitant]
     Active Substance: ALENDRONIC ACID
     Route: 064
  760. ALENDRONIC ACID [Concomitant]
     Active Substance: ALENDRONIC ACID
     Route: 064
  761. ALENDRONIC ACID [Concomitant]
     Active Substance: ALENDRONIC ACID
     Route: 064
  762. ALENDRONIC ACID [Concomitant]
     Active Substance: ALENDRONIC ACID
     Route: 064
  763. DICLOFENAC POTASSIUM [Concomitant]
     Active Substance: DICLOFENAC POTASSIUM
     Indication: Product used for unknown indication
     Route: 064
  764. DICLOFENAC POTASSIUM [Concomitant]
     Active Substance: DICLOFENAC POTASSIUM
     Route: 064
  765. DICLOFENAC POTASSIUM [Concomitant]
     Active Substance: DICLOFENAC POTASSIUM
     Route: 064
  766. DICLOFENAC POTASSIUM [Concomitant]
     Active Substance: DICLOFENAC POTASSIUM
     Route: 064
  767. DICLOFENAC POTASSIUM [Concomitant]
     Active Substance: DICLOFENAC POTASSIUM
     Route: 064
  768. DICLOFENAC POTASSIUM [Concomitant]
     Active Substance: DICLOFENAC POTASSIUM
     Route: 064
  769. DICLOFENAC POTASSIUM [Concomitant]
     Active Substance: DICLOFENAC POTASSIUM
     Route: 064
  770. TOFACITINIB [Concomitant]
     Active Substance: TOFACITINIB
     Indication: Product used for unknown indication
     Route: 064
  771. DOXYCYCLINE [Concomitant]
     Active Substance: DOXYCYCLINE
     Indication: Product used for unknown indication
     Route: 064
  772. FLUMETHASONE PIVALATE [Concomitant]
     Active Substance: FLUMETHASONE PIVALATE
     Indication: Product used for unknown indication
     Route: 064
  773. FLUMETHASONE PIVALATE [Concomitant]
     Active Substance: FLUMETHASONE PIVALATE
     Route: 064
  774. FLUMETHASONE PIVALATE [Concomitant]
     Active Substance: FLUMETHASONE PIVALATE
     Route: 064
  775. LYRICA [Concomitant]
     Active Substance: PREGABALIN
     Indication: Product used for unknown indication
     Route: 064
  776. MYCOPHENOLATE MOFETIL [Concomitant]
     Active Substance: MYCOPHENOLATE MOFETIL
     Indication: Product used for unknown indication
     Route: 064
  777. OTEZLA [Concomitant]
     Active Substance: APREMILAST
     Indication: Product used for unknown indication
     Route: 064
  778. OTEZLA [Concomitant]
     Active Substance: APREMILAST
     Route: 064
  779. OTEZLA [Concomitant]
     Active Substance: APREMILAST
     Route: 064
  780. OTEZLA [Concomitant]
     Active Substance: APREMILAST
     Route: 064
  781. CETIRIZINE HYDROCHLORIDE\PSEUDOEPHEDRINE HYDROCHLORIDE [Concomitant]
     Active Substance: CETIRIZINE HYDROCHLORIDE\PSEUDOEPHEDRINE HYDROCHLORIDE
     Indication: Product used for unknown indication
     Route: 064
  782. CETIRIZINE HYDROCHLORIDE\PSEUDOEPHEDRINE HYDROCHLORIDE [Concomitant]
     Active Substance: CETIRIZINE HYDROCHLORIDE\PSEUDOEPHEDRINE HYDROCHLORIDE
     Route: 064
  783. CETIRIZINE HYDROCHLORIDE\PSEUDOEPHEDRINE HYDROCHLORIDE [Concomitant]
     Active Substance: CETIRIZINE HYDROCHLORIDE\PSEUDOEPHEDRINE HYDROCHLORIDE
     Route: 064
  784. CETIRIZINE HYDROCHLORIDE\PSEUDOEPHEDRINE HYDROCHLORIDE [Concomitant]
     Active Substance: CETIRIZINE HYDROCHLORIDE\PSEUDOEPHEDRINE HYDROCHLORIDE
     Route: 064
  785. CETIRIZINE HYDROCHLORIDE\PSEUDOEPHEDRINE HYDROCHLORIDE [Concomitant]
     Active Substance: CETIRIZINE HYDROCHLORIDE\PSEUDOEPHEDRINE HYDROCHLORIDE
     Route: 064
  786. CETIRIZINE HYDROCHLORIDE\PSEUDOEPHEDRINE HYDROCHLORIDE [Concomitant]
     Active Substance: CETIRIZINE HYDROCHLORIDE\PSEUDOEPHEDRINE HYDROCHLORIDE
     Route: 064
  787. CETIRIZINE HYDROCHLORIDE\PSEUDOEPHEDRINE HYDROCHLORIDE [Concomitant]
     Active Substance: CETIRIZINE HYDROCHLORIDE\PSEUDOEPHEDRINE HYDROCHLORIDE
     Route: 064
  788. CETIRIZINE HYDROCHLORIDE\PSEUDOEPHEDRINE HYDROCHLORIDE [Concomitant]
     Active Substance: CETIRIZINE HYDROCHLORIDE\PSEUDOEPHEDRINE HYDROCHLORIDE
     Route: 064
  789. CETIRIZINE HYDROCHLORIDE\PSEUDOEPHEDRINE HYDROCHLORIDE [Concomitant]
     Active Substance: CETIRIZINE HYDROCHLORIDE\PSEUDOEPHEDRINE HYDROCHLORIDE
     Route: 064
  790. CETIRIZINE HYDROCHLORIDE\PSEUDOEPHEDRINE HYDROCHLORIDE [Concomitant]
     Active Substance: CETIRIZINE HYDROCHLORIDE\PSEUDOEPHEDRINE HYDROCHLORIDE
     Route: 064
  791. CETIRIZINE HYDROCHLORIDE\PSEUDOEPHEDRINE HYDROCHLORIDE [Concomitant]
     Active Substance: CETIRIZINE HYDROCHLORIDE\PSEUDOEPHEDRINE HYDROCHLORIDE
     Route: 064
  792. ACETAMINOPHEN\PROPOXYPHENE HYDROCHLORIDE [Concomitant]
     Active Substance: ACETAMINOPHEN\PROPOXYPHENE HYDROCHLORIDE
     Indication: Product used for unknown indication
     Route: 064
  793. PREDNISONE [Concomitant]
     Active Substance: PREDNISONE
     Indication: Product used for unknown indication
     Route: 064
  794. PREDNISONE [Concomitant]
     Active Substance: PREDNISONE
     Route: 064
  795. PREDNISONE [Concomitant]
     Active Substance: PREDNISONE
     Route: 064
  796. PREDNISONE [Concomitant]
     Active Substance: PREDNISONE
     Route: 064
  797. PREDNISONE [Concomitant]
     Active Substance: PREDNISONE
     Route: 064
  798. PREDNISONE [Concomitant]
     Active Substance: PREDNISONE
     Route: 064
  799. APREMILAST [Concomitant]
     Active Substance: APREMILAST
     Indication: Product used for unknown indication
     Route: 064
  800. APREMILAST [Concomitant]
     Active Substance: APREMILAST
     Route: 064
  801. APREMILAST [Concomitant]
     Active Substance: APREMILAST
     Route: 064
  802. CIMZIA [Concomitant]
     Active Substance: CERTOLIZUMAB PEGOL
     Indication: Product used for unknown indication
     Route: 064
  803. CIMZIA [Concomitant]
     Active Substance: CERTOLIZUMAB PEGOL
     Route: 064
  804. CIMZIA [Concomitant]
     Active Substance: CERTOLIZUMAB PEGOL
     Route: 064
  805. CIMZIA [Concomitant]
     Active Substance: CERTOLIZUMAB PEGOL
     Route: 064
  806. CIMZIA [Concomitant]
     Active Substance: CERTOLIZUMAB PEGOL
     Route: 064
  807. CIMZIA [Concomitant]
     Active Substance: CERTOLIZUMAB PEGOL
     Route: 064
  808. CIMZIA [Concomitant]
     Active Substance: CERTOLIZUMAB PEGOL
     Route: 064
  809. CIMZIA [Concomitant]
     Active Substance: CERTOLIZUMAB PEGOL
     Route: 064
  810. CIMZIA [Concomitant]
     Active Substance: CERTOLIZUMAB PEGOL
     Route: 064
  811. CIMZIA [Concomitant]
     Active Substance: CERTOLIZUMAB PEGOL
     Route: 064
  812. CIMZIA [Concomitant]
     Active Substance: CERTOLIZUMAB PEGOL
     Route: 064
  813. CORTISONE (HYDROCORTISONE) [Concomitant]
     Active Substance: HYDROCORTISONE
     Indication: Product used for unknown indication
     Route: 064
  814. CORTISONE (HYDROCORTISONE) [Concomitant]
     Active Substance: HYDROCORTISONE
     Route: 064
  815. CORTISONE (HYDROCORTISONE) [Concomitant]
     Active Substance: HYDROCORTISONE
     Route: 064
  816. CORTISONE (HYDROCORTISONE) [Concomitant]
     Active Substance: HYDROCORTISONE
     Route: 064
  817. CORTISONE (HYDROCORTISONE) [Concomitant]
     Active Substance: HYDROCORTISONE
     Route: 064
  818. CORTISONE (HYDROCORTISONE) [Concomitant]
     Active Substance: HYDROCORTISONE
     Route: 064
  819. CORTISONE (HYDROCORTISONE) [Concomitant]
     Active Substance: HYDROCORTISONE
     Route: 064
  820. CORTISONE (HYDROCORTISONE) [Concomitant]
     Active Substance: HYDROCORTISONE
     Route: 064
  821. CORTISONE (HYDROCORTISONE) [Concomitant]
     Active Substance: HYDROCORTISONE
     Route: 064
  822. CORTISONE (HYDROCORTISONE) [Concomitant]
     Active Substance: HYDROCORTISONE
     Route: 064
  823. CORTISONE (HYDROCORTISONE) [Concomitant]
     Active Substance: HYDROCORTISONE
     Route: 064
  824. CORTISONE (HYDROCORTISONE) [Concomitant]
     Active Substance: HYDROCORTISONE
     Route: 064
  825. CORTISONE (HYDROCORTISONE) [Concomitant]
     Active Substance: HYDROCORTISONE
     Route: 064
  826. CORTISONE (HYDROCORTISONE) [Concomitant]
     Active Substance: HYDROCORTISONE
     Route: 064
  827. CORTISONE (HYDROCORTISONE) [Concomitant]
     Active Substance: HYDROCORTISONE
     Route: 064
  828. HYDROCORTISONE [Concomitant]
     Active Substance: HYDROCORTISONE
     Indication: Product used for unknown indication
     Route: 064
  829. HYDROCORTISONE [Concomitant]
     Active Substance: HYDROCORTISONE
     Route: 064
  830. HYDROCORTISONE [Concomitant]
     Active Substance: HYDROCORTISONE
     Route: 064
  831. HYDROCORTISONE [Concomitant]
     Active Substance: HYDROCORTISONE
     Route: 064
  832. HYDROCORTISONE [Concomitant]
     Active Substance: HYDROCORTISONE
     Route: 064
  833. INFLIXIMAB [Concomitant]
     Active Substance: INFLIXIMAB
     Indication: Product used for unknown indication
     Route: 064
  834. INFLIXIMAB [Concomitant]
     Active Substance: INFLIXIMAB
     Route: 064
  835. INFLIXIMAB [Concomitant]
     Active Substance: INFLIXIMAB
     Route: 064
  836. INFLIXIMAB [Concomitant]
     Active Substance: INFLIXIMAB
     Route: 064
  837. INFLIXIMAB [Concomitant]
     Active Substance: INFLIXIMAB
     Route: 064
  838. INFLIXIMAB [Concomitant]
     Active Substance: INFLIXIMAB
     Route: 064
  839. INFLIXIMAB [Concomitant]
     Active Substance: INFLIXIMAB
     Route: 064
  840. INFLIXIMAB [Concomitant]
     Active Substance: INFLIXIMAB
     Route: 064
  841. INFLIXIMAB [Concomitant]
     Active Substance: INFLIXIMAB
     Route: 064
  842. INFLIXIMAB [Concomitant]
     Active Substance: INFLIXIMAB
     Route: 064
  843. SULFASALAZINE [Concomitant]
     Active Substance: SULFASALAZINE
     Indication: Product used for unknown indication
     Route: 064
  844. SULFASALAZINE [Concomitant]
     Active Substance: SULFASALAZINE
     Route: 064
  845. SULFASALAZINE [Concomitant]
     Active Substance: SULFASALAZINE
     Route: 064
  846. SULFASALAZINE [Concomitant]
     Active Substance: SULFASALAZINE
     Route: 064
  847. SULFASALAZINE [Concomitant]
     Active Substance: SULFASALAZINE
     Route: 064
  848. SULFASALAZINE [Concomitant]
     Active Substance: SULFASALAZINE
     Route: 064
  849. SULFASALAZINE [Concomitant]
     Active Substance: SULFASALAZINE
     Route: 064
  850. TOCILIZUMAB [Concomitant]
     Active Substance: TOCILIZUMAB
     Indication: Product used for unknown indication
     Route: 064
  851. TOCILIZUMAB [Concomitant]
     Active Substance: TOCILIZUMAB
     Route: 064
  852. TOCILIZUMAB [Concomitant]
     Active Substance: TOCILIZUMAB
     Route: 064
  853. TOCILIZUMAB [Concomitant]
     Active Substance: TOCILIZUMAB
     Route: 064
  854. TOFACITINIB [Concomitant]
     Active Substance: TOFACITINIB
     Indication: Product used for unknown indication
     Route: 064
  855. TOFACITINIB [Concomitant]
     Active Substance: TOFACITINIB
     Route: 064
  856. TOFACITINIB [Concomitant]
     Active Substance: TOFACITINIB
     Route: 064
  857. TOFACITINIB [Concomitant]
     Active Substance: TOFACITINIB
     Route: 064
  858. TOFACITINIB [Concomitant]
     Active Substance: TOFACITINIB
     Route: 064
  859. TOFACITINIB [Concomitant]
     Active Substance: TOFACITINIB
     Route: 064
  860. USTEKINUMAB [Concomitant]
     Active Substance: USTEKINUMAB
     Indication: Product used for unknown indication
     Route: 064
  861. USTEKINUMAB [Concomitant]
     Active Substance: USTEKINUMAB
     Route: 064
  862. USTEKINUMAB [Concomitant]
     Active Substance: USTEKINUMAB
     Route: 064
  863. USTEKINUMAB [Concomitant]
     Active Substance: USTEKINUMAB
     Route: 064
  864. USTEKINUMAB [Concomitant]
     Active Substance: USTEKINUMAB
     Route: 064
  865. USTEKINUMAB [Concomitant]
     Active Substance: USTEKINUMAB
     Route: 064
  866. ZYRTEC-D [Concomitant]
     Active Substance: CETIRIZINE HYDROCHLORIDE\PSEUDOEPHEDRINE HYDROCHLORIDE
     Indication: Product used for unknown indication
     Route: 064
  867. SYNTHROID [Concomitant]
     Active Substance: LEVOTHYROXINE SODIUM
     Indication: Product used for unknown indication
     Route: 064
  868. ACETAMINOPHEN [Concomitant]
     Active Substance: ACETAMINOPHEN
     Indication: Product used for unknown indication
     Route: 064
  869. XELJANZ [Concomitant]
     Active Substance: TOFACITINIB CITRATE
     Indication: Product used for unknown indication
     Route: 064
  870. XELJANZ [Concomitant]
     Active Substance: TOFACITINIB CITRATE
     Route: 064
  871. DICLOFENAC [Concomitant]
     Active Substance: DICLOFENAC
     Indication: Product used for unknown indication
     Route: 064
  872. IBUPROFEN [Concomitant]
     Active Substance: IBUPROFEN
     Indication: Product used for unknown indication
     Route: 064
  873. LEFLUNOMIDE [Concomitant]
     Active Substance: LEFLUNOMIDE
     Indication: Product used for unknown indication
     Route: 064
  874. LEFLUNOMIDE [Concomitant]
     Active Substance: LEFLUNOMIDE
     Route: 064
  875. LEFLUNOMIDE [Concomitant]
     Active Substance: LEFLUNOMIDE
     Route: 064
  876. LEFLUNOMIDE [Concomitant]
     Active Substance: LEFLUNOMIDE
     Route: 064
  877. LEFLUNOMIDE [Concomitant]
     Active Substance: LEFLUNOMIDE
     Route: 064
  878. LEFLUNOMIDE [Concomitant]
     Active Substance: LEFLUNOMIDE
     Route: 064
  879. LEFLUNOMIDE [Concomitant]
     Active Substance: LEFLUNOMIDE
     Route: 064
  880. LEFLUNOMIDE [Concomitant]
     Active Substance: LEFLUNOMIDE
     Route: 064
  881. LEFLUNOMIDE [Concomitant]
     Active Substance: LEFLUNOMIDE
     Route: 064
  882. LEFLUNOMIDE [Concomitant]
     Active Substance: LEFLUNOMIDE
     Route: 064
  883. LEFLUNOMIDE [Concomitant]
     Active Substance: LEFLUNOMIDE
     Route: 064
  884. LISINOPRIL [Concomitant]
     Active Substance: LISINOPRIL
     Indication: Product used for unknown indication
     Route: 064
  885. PREDNISOLONE [Concomitant]
     Active Substance: PREDNISOLONE
     Indication: Product used for unknown indication
     Route: 064
  886. SULFASALAZINE [Concomitant]
     Active Substance: SULFASALAZINE
     Indication: Product used for unknown indication
     Route: 064
  887. TOFACITINIB CITRATE [Concomitant]
     Active Substance: TOFACITINIB CITRATE
     Indication: Product used for unknown indication
     Route: 064
  888. XELJANZ [Concomitant]
     Active Substance: TOFACITINIB CITRATE
     Indication: Product used for unknown indication
     Route: 064
  889. VITAMIN D3 [Concomitant]
     Active Substance: CHOLECALCIFEROL
     Indication: Product used for unknown indication
     Route: 064
  890. VITAMIN D3 [Concomitant]
     Active Substance: CHOLECALCIFEROL
     Route: 064
  891. ACETAMINOPHEN [Concomitant]
     Active Substance: ACETAMINOPHEN
     Indication: Product used for unknown indication
     Route: 064
  892. ACETAMINOPHEN [Concomitant]
     Active Substance: ACETAMINOPHEN
     Route: 064
  893. ACETAMINOPHEN [Concomitant]
     Active Substance: ACETAMINOPHEN
     Route: 064
  894. ACETAMINOPHEN [Concomitant]
     Active Substance: ACETAMINOPHEN
     Route: 064
  895. CALCIUM [Concomitant]
     Active Substance: CALCIUM
     Indication: Product used for unknown indication
     Route: 064
  896. CALCIUM [Concomitant]
     Active Substance: CALCIUM
     Route: 064
  897. CALCIUM GLUCONATE [Concomitant]
     Active Substance: CALCIUM GLUCONATE
     Indication: Product used for unknown indication
     Route: 064
  898. CALCIUM GLUCONATE [Concomitant]
     Active Substance: CALCIUM GLUCONATE
     Route: 064
  899. PANTOPRAZOLE [Concomitant]
     Active Substance: PANTOPRAZOLE
     Indication: Product used for unknown indication
     Route: 064
  900. QUETIAPINE [Concomitant]
     Active Substance: QUETIAPINE
     Indication: Product used for unknown indication
     Route: 064
  901. RAMIPRIL [Concomitant]
     Active Substance: RAMIPRIL
     Indication: Product used for unknown indication
     Route: 064
  902. RAMIPRIL [Concomitant]
     Active Substance: RAMIPRIL
     Route: 064
  903. ACETAMINOPHEN AND CODEINE [Concomitant]
     Active Substance: ACETAMINOPHEN\CODEINE PHOSPHATE
     Indication: Product used for unknown indication
     Route: 064
  904. ACETAMINOPHEN AND CODEINE [Concomitant]
     Active Substance: ACETAMINOPHEN\CODEINE PHOSPHATE
     Route: 064
  905. CAFFEINE [Concomitant]
     Active Substance: CAFFEINE
     Indication: Product used for unknown indication
     Route: 064
  906. ACETAMINOPHEN\PROPOXYPHENE HYDROCHLORIDE [Concomitant]
     Active Substance: ACETAMINOPHEN\PROPOXYPHENE HYDROCHLORIDE
     Indication: Product used for unknown indication
     Route: 064
  907. ACETAMINOPHEN\PROPOXYPHENE HYDROCHLORIDE [Concomitant]
     Active Substance: ACETAMINOPHEN\PROPOXYPHENE HYDROCHLORIDE
     Indication: Product used for unknown indication
     Route: 064
  908. ACETAMINOPHEN\CAFFEINE [Concomitant]
     Active Substance: ACETAMINOPHEN\CAFFEINE
     Indication: Product used for unknown indication
     Route: 064
  909. ACETAMINOPHEN\CAFFEINE\CODEINE PHOSPHATE [Concomitant]
     Active Substance: ACETAMINOPHEN\CAFFEINE\CODEINE PHOSPHATE
     Indication: Product used for unknown indication
     Route: 064
  910. CAFFEINE CITRATE [Concomitant]
     Active Substance: CAFFEINE CITRATE
     Indication: Product used for unknown indication
     Route: 064
  911. CHOLECALCIFEROL [Concomitant]
     Active Substance: CHOLECALCIFEROL
     Indication: Product used for unknown indication
     Route: 064
  912. CHOLECALCIFEROL [Concomitant]
     Active Substance: CHOLECALCIFEROL
     Route: 064
  913. CHOLECALCIFEROL [Concomitant]
     Active Substance: CHOLECALCIFEROL
     Route: 064
  914. ACETAMINOPHEN\CODEINE PHOSPHATE [Concomitant]
     Active Substance: ACETAMINOPHEN\CODEINE PHOSPHATE
     Indication: Product used for unknown indication
     Route: 064
  915. MAGNESIUM [Concomitant]
     Active Substance: MAGNESIUM
     Indication: Product used for unknown indication
     Route: 064
  916. MELOXICAM [Concomitant]
     Active Substance: MELOXICAM
     Indication: Product used for unknown indication
     Route: 064
  917. PIROXICAM [Concomitant]
     Active Substance: PIROXICAM
     Indication: Product used for unknown indication
     Route: 064
  918. PREDNISOLONE ACETATE [Concomitant]
     Active Substance: PREDNISOLONE ACETATE
     Indication: Product used for unknown indication
     Route: 064
  919. PRINIVIL [Concomitant]
     Active Substance: LISINOPRIL
     Indication: Product used for unknown indication
     Route: 064
  920. PRINIVIL [Concomitant]
     Active Substance: LISINOPRIL
     Route: 064
  921. RISEDRONATE SODIUM [Concomitant]
     Active Substance: RISEDRONATE SODIUM
     Indication: Product used for unknown indication
     Route: 064
  922. RISEDRONATE SODIUM [Concomitant]
     Active Substance: RISEDRONATE SODIUM
     Route: 064
  923. SALAZOPYRINE [Concomitant]
     Active Substance: SULFASALAZINE
     Indication: Product used for unknown indication
     Route: 064
  924. CELECOXIB [Concomitant]
     Active Substance: CELECOXIB
     Indication: Product used for unknown indication
     Route: 064
  925. CELECOXIB [Concomitant]
     Active Substance: CELECOXIB
     Route: 064
  926. CELECOXIB [Concomitant]
     Active Substance: CELECOXIB
     Route: 064
  927. CELECOXIB [Concomitant]
     Active Substance: CELECOXIB
     Route: 064
  928. CELECOXIB [Concomitant]
     Active Substance: CELECOXIB
     Route: 064
  929. DICLOFENAC DIETHYLAMINE [Concomitant]
     Active Substance: DICLOFENAC DIETHYLAMINE
     Indication: Product used for unknown indication
     Route: 064
  930. LEVOTHYROXINE SODIUM [Concomitant]
     Active Substance: LEVOTHYROXINE SODIUM
     Indication: Product used for unknown indication
     Route: 064
  931. LISINOPRIL [Concomitant]
     Active Substance: LISINOPRIL
     Indication: Product used for unknown indication
     Route: 064
  932. LISINOPRIL [Concomitant]
     Active Substance: LISINOPRIL
     Route: 064
  933. PREGABALIN [Concomitant]
     Active Substance: PREGABALIN
     Indication: Product used for unknown indication
     Route: 064
  934. ACETAMINOPHEN\CODEINE PHOSPHATE [Concomitant]
     Active Substance: ACETAMINOPHEN\CODEINE PHOSPHATE
     Indication: Product used for unknown indication
     Route: 064
  935. DEXAMETHASONE [Concomitant]
     Active Substance: DEXAMETHASONE
     Indication: Product used for unknown indication
     Route: 064
  936. QUETIAPINE FUMARATE [Concomitant]
     Active Substance: QUETIAPINE FUMARATE
     Indication: Product used for unknown indication
     Route: 064
  937. QUETIAPINE FUMARATE [Concomitant]
     Active Substance: QUETIAPINE FUMARATE
     Route: 064
  938. CETIRIZINE HYDROCHLORIDE\PHENYLEPHRINE HYDROCHLORIDE [Concomitant]
     Active Substance: CETIRIZINE HYDROCHLORIDE\PHENYLEPHRINE HYDROCHLORIDE
     Indication: Product used for unknown indication
     Route: 064
  939. HYDROCORTISONE BUTYRATE [Concomitant]
     Active Substance: HYDROCORTISONE BUTYRATE
     Indication: Product used for unknown indication
     Route: 064
  940. HYDROCORTISONE BUTYRATE [Concomitant]
     Active Substance: HYDROCORTISONE BUTYRATE
     Route: 064
  941. HYDROCORTISONE BUTYRATE [Concomitant]
     Active Substance: HYDROCORTISONE BUTYRATE
     Route: 064
  942. HYDROCORTISONE BUTYRATE [Concomitant]
     Active Substance: HYDROCORTISONE BUTYRATE
     Route: 064
  943. HYDROCORTISONE BUTYRATE [Concomitant]
     Active Substance: HYDROCORTISONE BUTYRATE
     Route: 064
  944. ACETAMINOPHEN\CAFFEINE\CODEINE PHOSPHATE [Concomitant]
     Active Substance: ACETAMINOPHEN\CAFFEINE\CODEINE PHOSPHATE
     Indication: Product used for unknown indication
     Route: 064
  945. NAPROXEN [Concomitant]
     Active Substance: NAPROXEN
     Indication: Product used for unknown indication
     Route: 064
  946. PANTOPRAZOLE [Concomitant]
     Active Substance: PANTOPRAZOLE
     Indication: Product used for unknown indication
     Route: 064
  947. APREPITANT [Concomitant]
     Active Substance: APREPITANT
     Indication: Product used for unknown indication
     Route: 064
  948. APREPITANT [Concomitant]
     Active Substance: APREPITANT
     Route: 064
  949. CHLORAPREP [Concomitant]
     Active Substance: CHLORHEXIDINE GLUCONATE\ISOPROPYL ALCOHOL
     Indication: Product used for unknown indication
     Route: 064
  950. CHLORAPREP [Concomitant]
     Active Substance: CHLORHEXIDINE GLUCONATE\ISOPROPYL ALCOHOL
     Route: 064
  951. CHLORHEXIDINE [Concomitant]
     Active Substance: CHLORHEXIDINE
     Indication: Product used for unknown indication
     Route: 064
  952. CHLORHEXIDINE [Concomitant]
     Active Substance: CHLORHEXIDINE
     Route: 064
  953. CHLORHEXIDINE [Concomitant]
     Active Substance: CHLORHEXIDINE
     Route: 064
  954. CHLORHEXIDINE [Concomitant]
     Active Substance: CHLORHEXIDINE
     Route: 064
  955. CHLORHEXIDINE [Concomitant]
     Active Substance: CHLORHEXIDINE
     Route: 064
  956. CHLORHEXIDINE [Concomitant]
     Active Substance: CHLORHEXIDINE
     Route: 064
  957. CHLORHEXIDINE [Concomitant]
     Active Substance: CHLORHEXIDINE
     Route: 064
  958. CHLORHEXIDINE [Concomitant]
     Active Substance: CHLORHEXIDINE
     Route: 064
  959. CHLORHEXIDINE [Concomitant]
     Active Substance: CHLORHEXIDINE
     Route: 064
  960. CHLORHEXIDINE [Concomitant]
     Active Substance: CHLORHEXIDINE
     Route: 064
  961. CHLORHEXIDINE GLUCONATE [Concomitant]
     Active Substance: CHLORHEXIDINE GLUCONATE
     Indication: Product used for unknown indication
     Route: 064
  962. CHLORHEXIDINE GLUCONATE [Concomitant]
     Active Substance: CHLORHEXIDINE GLUCONATE
     Route: 064
  963. CHLORHEXIDINE GLUCONATE [Concomitant]
     Active Substance: CHLORHEXIDINE GLUCONATE
     Route: 064
  964. HYDROCORTISONE SODIUM SUCCINATE [Concomitant]
     Active Substance: HYDROCORTISONE SODIUM SUCCINATE
     Indication: Product used for unknown indication
     Route: 064
  965. HYDROCORTISONE SODIUM SUCCINATE [Concomitant]
     Active Substance: HYDROCORTISONE SODIUM SUCCINATE
     Route: 064
  966. HYDROCORTISONE SODIUM SUCCINATE [Concomitant]
     Active Substance: HYDROCORTISONE SODIUM SUCCINATE
     Route: 064
  967. HYDROCORTISONE SODIUM SUCCINATE [Concomitant]
     Active Substance: HYDROCORTISONE SODIUM SUCCINATE
     Route: 064
  968. HYDROCORTISONE SODIUM SUCCINATE [Concomitant]
     Active Substance: HYDROCORTISONE SODIUM SUCCINATE
     Route: 064
  969. HYDROCORTISONE SODIUM SUCCINATE [Concomitant]
     Active Substance: HYDROCORTISONE SODIUM SUCCINATE
     Route: 064
  970. HYDROCORTISONE SODIUM SUCCINATE [Concomitant]
     Active Substance: HYDROCORTISONE SODIUM SUCCINATE
     Route: 064
  971. HYDROCORTISONE SODIUM SUCCINATE [Concomitant]
     Active Substance: HYDROCORTISONE SODIUM SUCCINATE
     Route: 064
  972. HYDROCORTISONE SODIUM SUCCINATE [Concomitant]
     Active Substance: HYDROCORTISONE SODIUM SUCCINATE
     Route: 064
  973. ISOPROPYL ALCOHOL [Concomitant]
     Active Substance: ISOPROPYL ALCOHOL
     Indication: Product used for unknown indication
     Route: 064
  974. ISOPROPYL ALCOHOL [Concomitant]
     Active Substance: ISOPROPYL ALCOHOL
     Route: 064
  975. ISOPROPYL ALCOHOL [Concomitant]
     Active Substance: ISOPROPYL ALCOHOL
     Route: 064
  976. ISOPROPYL ALCOHOL [Concomitant]
     Active Substance: ISOPROPYL ALCOHOL
     Route: 064
  977. NEOMYCIN [Concomitant]
     Active Substance: NEOMYCIN
     Indication: Product used for unknown indication
     Route: 064
  978. OXYCODONE [Concomitant]
     Active Substance: OXYCODONE
     Indication: Product used for unknown indication
     Route: 064
  979. OXYCODONE [Concomitant]
     Active Substance: OXYCODONE
     Route: 064
  980. OXYCODONE HYDROCHLORIDE [Concomitant]
     Active Substance: OXYCODONE HYDROCHLORIDE
     Indication: Product used for unknown indication
     Route: 064
  981. OXYCODONE TEREPHTHALATE [Concomitant]
     Active Substance: OXYCODONE TEREPHTHALATE
     Indication: Product used for unknown indication
     Route: 064
  982. OXYCODONE TEREPHTHALATE [Concomitant]
     Active Substance: OXYCODONE TEREPHTHALATE
     Route: 064
  983. PERIOGARD [Concomitant]
     Active Substance: CHLORHEXIDINE GLUCONATE
     Indication: Product used for unknown indication
     Route: 064
  984. PERIOGARD [Concomitant]
     Active Substance: CHLORHEXIDINE GLUCONATE
     Route: 064
  985. PERIOGARD [Concomitant]
     Active Substance: CHLORHEXIDINE GLUCONATE
     Route: 064
  986. PERIOGARD [Concomitant]
     Active Substance: CHLORHEXIDINE GLUCONATE
     Route: 064
  987. PERIOGARD [Concomitant]
     Active Substance: CHLORHEXIDINE GLUCONATE
     Route: 064
  988. SULFAMETHOXAZOLE [Concomitant]
     Active Substance: SULFAMETHOXAZOLE
     Indication: Product used for unknown indication
     Route: 064
  989. SULFAMETHOXAZOLE\TRIMETHOPRIM [Concomitant]
     Active Substance: SULFAMETHOXAZOLE\TRIMETHOPRIM
     Indication: Product used for unknown indication
     Route: 064
  990. SULFAMETHOXAZOLE\TRIMETHOPRIM [Concomitant]
     Active Substance: SULFAMETHOXAZOLE\TRIMETHOPRIM
     Route: 064
  991. SULFAMETHOXAZOLE\TRIMETHOPRIM [Concomitant]
     Active Substance: SULFAMETHOXAZOLE\TRIMETHOPRIM
     Route: 064
  992. TRAMADOL HYDROCHLORIDE [Concomitant]
     Active Substance: TRAMADOL HYDROCHLORIDE
     Indication: Product used for unknown indication
     Route: 064
  993. TYLENOL [Concomitant]
     Active Substance: ACETAMINOPHEN
     Indication: Product used for unknown indication
     Route: 064
  994. TYLENOL [Concomitant]
     Active Substance: ACETAMINOPHEN
     Route: 064
  995. TYLENOL [Concomitant]
     Active Substance: ACETAMINOPHEN
     Route: 064
  996. TYLENOL WITH CODEINE [Concomitant]
     Active Substance: ACETAMINOPHEN\CODEINE PHOSPHATE
     Indication: Product used for unknown indication
     Route: 064
  997. ZOPICLONE [Concomitant]
     Active Substance: ZOPICLONE
     Indication: Product used for unknown indication
     Route: 064
  998. MARVELON [Concomitant]
     Active Substance: DESOGESTREL\ETHINYL ESTRADIOL
     Indication: Product used for unknown indication
     Route: 064
  999. MARVELON [Concomitant]
     Active Substance: DESOGESTREL\ETHINYL ESTRADIOL
     Route: 064
  1000. MEGLUMINE [Concomitant]
     Active Substance: MEGLUMINE
     Indication: Product used for unknown indication
     Route: 064
  1001. DESOGESTREL\ETHINYL ESTRADIOL [Concomitant]
     Active Substance: DESOGESTREL\ETHINYL ESTRADIOL
     Indication: Product used for unknown indication
     Route: 064
  1002. DESOGESTREL\ETHINYL ESTRADIOL [Concomitant]
     Active Substance: DESOGESTREL\ETHINYL ESTRADIOL
     Route: 064
  1003. CALCIUM CARBONATE [Concomitant]
     Active Substance: CALCIUM CARBONATE
     Indication: Product used for unknown indication
     Route: 064
  1004. ALENDRONATE SODIUM\CHOLECALCIFEROL [Concomitant]
     Active Substance: ALENDRONATE SODIUM\CHOLECALCIFEROL
     Indication: Product used for unknown indication
     Route: 064
  1005. ALENDRONATE SODIUM\CHOLECALCIFEROL [Concomitant]
     Active Substance: ALENDRONATE SODIUM\CHOLECALCIFEROL
     Route: 064
  1006. ACETAMINOPHEN\OXYCODONE HYDROCHLORIDE [Concomitant]
     Active Substance: ACETAMINOPHEN\OXYCODONE HYDROCHLORIDE
     Indication: Product used for unknown indication
     Route: 064
  1007. DICLOFENAC SODIUM [Concomitant]
     Active Substance: DICLOFENAC SODIUM
     Indication: Product used for unknown indication
     Route: 064
  1008. DICLOFENAC SODIUM [Concomitant]
     Active Substance: DICLOFENAC SODIUM
     Route: 064
  1009. DICLOFENAC SODIUM [Concomitant]
     Active Substance: DICLOFENAC SODIUM
     Route: 064
  1010. DICLOFENAC SODIUM [Concomitant]
     Active Substance: DICLOFENAC SODIUM
     Route: 064
  1011. CALCIUM GLUBIONATE [Concomitant]
     Active Substance: CALCIUM GLUBIONATE
     Indication: Product used for unknown indication
     Route: 064
  1012. DOXYCYCLINE HYCLATE [Concomitant]
     Active Substance: DOXYCYCLINE HYCLATE
     Indication: Product used for unknown indication
     Route: 064
  1013. DOXYCYCLINE HYCLATE [Concomitant]
     Active Substance: DOXYCYCLINE HYCLATE
     Route: 064
  1014. PANTOPRAZOLE SODIUM [Concomitant]
     Active Substance: PANTOPRAZOLE SODIUM
     Indication: Product used for unknown indication
     Route: 064
  1015. PANTOPRAZOLE SODIUM [Concomitant]
     Active Substance: PANTOPRAZOLE SODIUM
     Route: 064
  1016. PSEUDOEPHEDRINE [Concomitant]
     Active Substance: PSEUDOEPHEDRINE
     Indication: Product used for unknown indication
     Route: 064
  1017. PSEUDOEPHEDRINE [Concomitant]
     Active Substance: PSEUDOEPHEDRINE
     Route: 064
  1018. HYALURONIDASE (HUMAN RECOMBINANT)\RITUXIMAB [Concomitant]
     Active Substance: HYALURONIDASE (HUMAN RECOMBINANT)\RITUXIMAB
     Indication: Product used for unknown indication
     Route: 064
  1019. DIETARY SUPPLEMENT\HERBALS [Concomitant]
     Active Substance: DIETARY SUPPLEMENT\HERBALS
     Indication: Product used for unknown indication
     Route: 064
  1020. DIETARY SUPPLEMENT\HERBALS [Concomitant]
     Active Substance: DIETARY SUPPLEMENT\HERBALS
     Route: 064
  1021. VITAMIN C [Concomitant]
     Active Substance: ASCORBIC ACID
     Indication: Product used for unknown indication
     Route: 064
  1022. VITAMIN C [Concomitant]
     Active Substance: ASCORBIC ACID
     Route: 064
  1023. VITAMIN C [Concomitant]
     Active Substance: ASCORBIC ACID
     Route: 064
  1024. VITAMIN C [Concomitant]
     Active Substance: ASCORBIC ACID
     Route: 064
  1025. CALCIUM CHLORIDE [Concomitant]
     Active Substance: CALCIUM CHLORIDE
     Indication: Product used for unknown indication
     Route: 064
  1026. PHENYLEPHRINE HYDROCHLORIDE [Concomitant]
     Active Substance: PHENYLEPHRINE HYDROCHLORIDE
     Indication: Product used for unknown indication
     Route: 064
  1027. PHENYLEPHRINE HYDROCHLORIDE [Concomitant]
     Active Substance: PHENYLEPHRINE HYDROCHLORIDE
     Route: 064
  1028. PHENYLEPHRINE HYDROCHLORIDE [Concomitant]
     Active Substance: PHENYLEPHRINE HYDROCHLORIDE
     Route: 064
  1029. CODEINE [Concomitant]
     Active Substance: CODEINE
     Indication: Product used for unknown indication
     Route: 064
  1030. AZATHIOPRINE [Concomitant]
     Active Substance: AZATHIOPRINE
     Indication: Product used for unknown indication
     Route: 064
  1031. CHLORHEXIDINE GLUCONATE\ISOPROPYL ALCOHOL [Concomitant]
     Active Substance: CHLORHEXIDINE GLUCONATE\ISOPROPYL ALCOHOL
     Indication: Product used for unknown indication
     Route: 064
  1032. CHLORHEXIDINE GLUCONATE\ISOPROPYL ALCOHOL [Concomitant]
     Active Substance: CHLORHEXIDINE GLUCONATE\ISOPROPYL ALCOHOL
     Route: 064
  1033. CHLORHEXIDINE GLUCONATE\ISOPROPYL ALCOHOL [Concomitant]
     Active Substance: CHLORHEXIDINE GLUCONATE\ISOPROPYL ALCOHOL
     Route: 064
  1034. ACETAMINOPHEN AND CODEINE [Concomitant]
     Active Substance: ACETAMINOPHEN\CODEINE PHOSPHATE
     Indication: Product used for unknown indication
     Route: 064
  1035. ACETAMINOPHEN AND CODEINE [Concomitant]
     Active Substance: ACETAMINOPHEN\CODEINE PHOSPHATE
     Route: 064
  1036. TRAMADOL HYDROCHLORIDE [Concomitant]
     Active Substance: TRAMADOL HYDROCHLORIDE
     Indication: Product used for unknown indication
     Route: 064
  1037. ATIVAN [Concomitant]
     Active Substance: LORAZEPAM
     Indication: Product used for unknown indication
     Route: 064
  1038. DILTIAZEM [Concomitant]
     Active Substance: DILTIAZEM
     Indication: Product used for unknown indication
     Route: 064
  1039. ERGOCALCIFEROL [Concomitant]
     Active Substance: ERGOCALCIFEROL
     Indication: Product used for unknown indication
     Route: 064
  1040. ERYTHROMYCIN [Concomitant]
     Active Substance: ERYTHROMYCIN
     Indication: Product used for unknown indication
     Route: 064
  1041. GLUCOSAMINE [Concomitant]
     Active Substance: GLUCOSAMINE
     Indication: Product used for unknown indication
     Route: 064
  1042. DICLOFENAC DIETHYLAMINE [Concomitant]
     Active Substance: DICLOFENAC DIETHYLAMINE
     Indication: Product used for unknown indication
     Route: 064
  1043. PANTOPRAZOLE SODIUM ANHYDROUS [Concomitant]
     Active Substance: PANTOPRAZOLE SODIUM ANHYDROUS
     Indication: Product used for unknown indication
     Route: 064
  1044. PANTOPRAZOLE SODIUM ANHYDROUS [Concomitant]
     Active Substance: PANTOPRAZOLE SODIUM ANHYDROUS
     Route: 064
  1045. BORAGE OIL [Concomitant]
     Active Substance: BORAGE OIL
     Indication: Product used for unknown indication
     Route: 064
  1046. CALCIUM CARBONATE\CHOLECALCIFEROL [Concomitant]
     Active Substance: CALCIUM CARBONATE\CHOLECALCIFEROL
     Indication: Product used for unknown indication
     Route: 064
  1047. ENTYVIO [Concomitant]
     Active Substance: VEDOLIZUMAB
     Indication: Product used for unknown indication
     Route: 064
  1048. MESALAMINE [Concomitant]
     Active Substance: MESALAMINE
     Indication: Product used for unknown indication
     Route: 064
  1049. RINVOQ [Concomitant]
     Active Substance: UPADACITINIB
     Indication: Product used for unknown indication
     Route: 064
  1050. RINVOQ [Concomitant]
     Active Substance: UPADACITINIB
     Route: 064
  1051. SOLU-MEDROL [Concomitant]
     Active Substance: METHYLPREDNISOLONE SODIUM SUCCINATE
     Indication: Product used for unknown indication
     Route: 064
  1052. SULFATHIAZOLE [Concomitant]
     Active Substance: SULFATHIAZOLE
     Indication: Product used for unknown indication
     Route: 064
  1053. DICLOFENAC [Concomitant]
     Active Substance: DICLOFENAC
     Indication: Product used for unknown indication
     Route: 064
  1054. ASACOL [Concomitant]
     Active Substance: MESALAMINE
     Indication: Product used for unknown indication
     Route: 064
  1055. CALCIUM [Concomitant]
     Active Substance: CALCIUM
     Indication: Product used for unknown indication
     Route: 064
  1056. DIPHENHYDRAMINE [Concomitant]
     Active Substance: DIPHENHYDRAMINE
     Indication: Product used for unknown indication
     Route: 064
  1057. EMEND [Concomitant]
     Active Substance: APREPITANT
     Indication: Product used for unknown indication
     Route: 064
  1058. EMEND [Concomitant]
     Active Substance: APREPITANT
     Route: 064
  1059. FOSAPREPITANT [Concomitant]
     Active Substance: FOSAPREPITANT
     Indication: Product used for unknown indication
     Route: 064
  1060. HYALURONIDASE [Concomitant]
     Active Substance: HYALURONIDASE
     Indication: Product used for unknown indication
     Route: 064
  1061. LANSOPRAZOLE [Concomitant]
     Active Substance: LANSOPRAZOLE
     Indication: Product used for unknown indication
     Route: 064
  1062. CLIOQUINOL\FLUMETHASONE [Concomitant]
     Active Substance: CLIOQUINOL\FLUMETHASONE
     Indication: Product used for unknown indication
     Route: 064
  1063. LORAZEPAM [Concomitant]
     Active Substance: LORAZEPAM
     Indication: Product used for unknown indication
     Route: 064
  1064. MESALAMINE [Concomitant]
     Active Substance: MESALAMINE
     Indication: Product used for unknown indication
     Route: 064
  1065. MORPHINE [Concomitant]
     Active Substance: MORPHINE
     Indication: Product used for unknown indication
     Route: 064
  1066. PANTOPRAZOLE SODIUM [Concomitant]
     Active Substance: PANTOPRAZOLE SODIUM
     Indication: Product used for unknown indication
     Route: 064
  1067. PARA-AMINOSALICYLIC ACID [Concomitant]
     Active Substance: AMINOSALICYLIC ACID
     Indication: Product used for unknown indication
     Route: 064
  1068. PERCOCET [Concomitant]
     Active Substance: ACETAMINOPHEN\OXYCODONE HYDROCHLORIDE
     Indication: Product used for unknown indication
     Route: 064
  1069. PERCOCET [Concomitant]
     Active Substance: ACETAMINOPHEN\OXYCODONE HYDROCHLORIDE
     Route: 064
  1070. PREVACID [Concomitant]
     Active Substance: LANSOPRAZOLE
     Indication: Product used for unknown indication
     Route: 064
  1071. ALBUTEROL [Concomitant]
     Active Substance: ALBUTEROL
     Indication: Product used for unknown indication
     Route: 064
  1072. ZESTRIL [Concomitant]
     Active Substance: LISINOPRIL
     Indication: Product used for unknown indication
     Route: 064
  1073. ACTIFED (PSEUDOEPHEDRINE HYDROCHLORIDE\TRIPROLIDINE HYDROCHLORIDE) [Concomitant]
     Active Substance: PSEUDOEPHEDRINE HYDROCHLORIDE\TRIPROLIDINE HYDROCHLORIDE
     Indication: Product used for unknown indication
  1074. SECUKINUMAB [Concomitant]
     Active Substance: SECUKINUMAB
     Indication: Product used for unknown indication
     Route: 064
  1075. AZULFIDINE [Concomitant]
     Active Substance: SULFASALAZINE
     Indication: Product used for unknown indication
     Route: 064
  1076. CLIOQUINOL [Concomitant]
     Active Substance: CLIOQUINOL
     Indication: Product used for unknown indication
     Route: 064
  1077. DILTIAZEM HYDROCHLORIDE [Concomitant]
     Active Substance: DILTIAZEM HYDROCHLORIDE
     Indication: Product used for unknown indication
     Route: 064
  1078. ACETAMINOPHEN [Concomitant]
     Active Substance: ACETAMINOPHEN
     Indication: Product used for unknown indication
     Route: 048
  1079. ACETAMINOPHEN [Concomitant]
     Active Substance: ACETAMINOPHEN
     Route: 064
  1080. ACETAMINOPHEN\OXYCODONE HYDROCHLORIDE [Concomitant]
     Active Substance: ACETAMINOPHEN\OXYCODONE HYDROCHLORIDE
     Indication: Product used for unknown indication
     Route: 064
  1081. HYALURONIDASE (HUMAN RECOMBINANT) [Concomitant]
     Active Substance: HYALURONIDASE (HUMAN RECOMBINANT)
     Indication: Product used for unknown indication
     Route: 064
  1082. MINOCYCLINE HYDROCHLORIDE [Concomitant]
     Active Substance: MINOCYCLINE HYDROCHLORIDE
     Indication: Product used for unknown indication
     Route: 064
  1083. PREDNISONE;RITUXIMAB [Concomitant]
     Indication: Product used for unknown indication
     Route: 064
  1084. PREDNISONE;RITUXIMAB [Concomitant]
     Route: 064
  1085. PREDNISONE;RITUXIMAB [Concomitant]
     Route: 064
  1086. PREDNISONE;RITUXIMAB [Concomitant]
     Route: 064
  1087. HYDROCORTISONE\NEOMYCIN\NITROFURAZONE\RETINOL\THYMOL\TYROTHRICIN [Concomitant]
     Active Substance: HYDROCORTISONE\NEOMYCIN\NITROFURAZONE\RETINOL\THYMOL\TYROTHRICIN
     Indication: Product used for unknown indication
     Route: 064
  1088. HYDROCORTISONE\NEOMYCIN\NITROFURAZONE\RETINOL\THYMOL\TYROTHRICIN [Concomitant]
     Active Substance: HYDROCORTISONE\NEOMYCIN\NITROFURAZONE\RETINOL\THYMOL\TYROTHRICIN
     Route: 064
  1089. FLUMETHASONE\SALICYLIC ACID [Concomitant]
     Active Substance: FLUMETHASONE\SALICYLIC ACID
     Indication: Product used for unknown indication
     Route: 064
  1090. DESOXIMETASONE\FRAMYCETIN SULFATE\GRAMICIDIN [Concomitant]
     Active Substance: DESOXIMETASONE\FRAMYCETIN SULFATE\GRAMICIDIN
     Indication: Product used for unknown indication
     Route: 064
  1091. CORTISONE ACETATE\DIPHENHYDRMINE HYDROCHLORIDE\SULFISOMIDINE [Concomitant]
     Active Substance: CORTISONE ACETATE\DIPHENHYDRAMINE HYDROCHLORIDE\SULFISOMIDINE
     Indication: Product used for unknown indication
     Route: 064
  1092. CHLORHEXIDINE\SODIUM FLUORIDE\TRICLOSAN\ZINC CHLORIDE [Concomitant]
     Active Substance: CHLORHEXIDINE\SODIUM FLUORIDE\TRICLOSAN\ZINC CHLORIDE
     Indication: Product used for unknown indication
     Route: 064
  1093. MINERALS\VITAMINS [Concomitant]
     Active Substance: MINERALS\VITAMINS
     Indication: Product used for unknown indication
     Route: 064
  1094. AMINOSALICYLATE CALCIUM [Concomitant]
     Active Substance: AMINOSALICYLATE CALCIUM
     Indication: Product used for unknown indication
     Route: 064
  1095. BUPIVACAINE HYDROCHLORIDE\CLONIDINE HYDROCHLORIDE\MORPHINE SULFATE [Concomitant]
     Active Substance: BUPIVACAINE HYDROCHLORIDE\CLONIDINE HYDROCHLORIDE\MORPHINE SULFATE
     Indication: Product used for unknown indication
     Route: 064
  1096. AZATHIOPRINE SODIUM [Concomitant]
     Active Substance: AZATHIOPRINE SODIUM
     Indication: Product used for unknown indication
     Route: 064
  1097. ALENDRONIC ACID\CALCIUM CITRATE\CHOLECALCIFEROL [Concomitant]
     Active Substance: ALENDRONIC ACID\CALCIUM CITRATE\CHOLECALCIFEROL
     Indication: Product used for unknown indication
     Route: 064
  1098. ALENDRONATE SODIUM [Concomitant]
     Active Substance: ALENDRONATE SODIUM
     Indication: Product used for unknown indication
     Route: 064
  1099. FISH OIL [Concomitant]
     Active Substance: FISH OIL
     Indication: Product used for unknown indication
     Route: 064
  1100. ACETAMINOPHEN\CYANOCOBALAMIN\THIAMINE\TRAMADOL HYDROCHLORIDE [Concomitant]
     Active Substance: ACETAMINOPHEN\CYANOCOBALAMIN\THIAMINE\TRAMADOL HYDROCHLORIDE
     Indication: Product used for unknown indication
     Route: 064
  1101. FLUOROMETHOLONE [Concomitant]
     Active Substance: FLUOROMETHOLONE
     Indication: Product used for unknown indication
     Route: 064
  1102. ACETAMINOPHEN\CAFFEINE\CODEINE PHOSPHATE [Concomitant]
     Active Substance: ACETAMINOPHEN\CAFFEINE\CODEINE PHOSPHATE
     Indication: Product used for unknown indication
     Route: 064
  1103. DIETARY SUPPLEMENT [Concomitant]
     Active Substance: DIETARY SUPPLEMENT
     Indication: Product used for unknown indication
     Route: 064
  1104. DESOGESTREL AND ETHINYL ESTRADIOL [Concomitant]
     Active Substance: DESOGESTREL\ETHINYL ESTRADIOL
     Indication: Product used for unknown indication
     Route: 064
  1105. DEXTROMETHORPHAN HYDROBROMIDE\TRIPROLIDINE HYDROCHLORIDE [Concomitant]
     Active Substance: DEXTROMETHORPHAN HYDROBROMIDE\TRIPROLIDINE HYDROCHLORIDE
     Indication: Product used for unknown indication
     Route: 064
  1106. HYDROCORTISONE PROBUTATE [Concomitant]
     Active Substance: HYDROCORTISONE PROBUTATE
     Indication: Product used for unknown indication
     Route: 064
  1107. TRIMETHOPRIM [Concomitant]
     Active Substance: TRIMETHOPRIM
     Indication: Product used for unknown indication
     Route: 064
  1108. ERGOCALCIFEROL;RETINOL ACETATE [Concomitant]
     Indication: Product used for unknown indication
     Route: 064
  1109. LANSOPRAZOLE\METRONIDAZOLE\TETRACYCLINE [Concomitant]
     Active Substance: LANSOPRAZOLE\METRONIDAZOLE\TETRACYCLINE
     Indication: Product used for unknown indication
     Route: 064
  1110. PANTOPRAZOLE SODIUM [Concomitant]
     Active Substance: PANTOPRAZOLE SODIUM
     Indication: Product used for unknown indication
     Route: 064
  1111. ACETAMINOPHEN AND CODEINE [Concomitant]
     Active Substance: ACETAMINOPHEN\CODEINE PHOSPHATE
     Indication: Product used for unknown indication
     Route: 064
  1112. ALENDRONATE SODIUM\CHOLECALCIFEROL [Concomitant]
     Active Substance: ALENDRONATE SODIUM\CHOLECALCIFEROL
     Indication: Product used for unknown indication
     Route: 064
  1113. CALCIUM + VITAMIN D3 [CALCIUM;COLECALCIFEROL] [Concomitant]
     Indication: Product used for unknown indication
     Route: 064
  1114. CALCIUM CARBONATE\CHOLECALCIFEROL [Concomitant]
     Active Substance: CALCIUM CARBONATE\CHOLECALCIFEROL
     Indication: Product used for unknown indication
     Route: 064
  1115. CODEINE PHOSPHATE [Concomitant]
     Active Substance: CODEINE PHOSPHATE
     Indication: Product used for unknown indication
     Route: 064
  1116. FLUMETHASONE PIVALATE [Concomitant]
     Active Substance: FLUMETHASONE PIVALATE
     Indication: Product used for unknown indication
     Route: 064
  1117. NAPROSYN [Concomitant]
     Active Substance: NAPROXEN
     Indication: Product used for unknown indication
     Route: 064
  1118. NAPROXEN [Concomitant]
     Active Substance: NAPROXEN
     Indication: Product used for unknown indication
     Route: 064
  1119. NAPROXEN [Concomitant]
     Active Substance: NAPROXEN
     Route: 064
  1120. PSEUDOEPHEDRINE HYDROCHLORIDE AND TRIPROLIDINE HYDROCHLORIDE [Concomitant]
     Active Substance: PSEUDOEPHEDRINE HYDROCHLORIDE\TRIPROLIDINE HYDROCHLORIDE
     Indication: Product used for unknown indication
     Route: 064
  1121. DIETARY SUPPLEMENT [Concomitant]
     Active Substance: DIETARY SUPPLEMENT
     Indication: Product used for unknown indication
     Route: 064
  1122. TRIPROLIDINE HYDROCHLORIDE [Concomitant]
     Active Substance: TRIPROLIDINE HYDROCHLORIDE
     Indication: Product used for unknown indication
     Route: 064
  1123. VEDOLIZUMAB [Concomitant]
     Active Substance: VEDOLIZUMAB
     Indication: Product used for unknown indication
     Route: 064
  1124. CETIRIZINE HYDROCHLORIDE\PSEUDOEPHEDRINE HYDROCHLORIDE [Concomitant]
     Active Substance: CETIRIZINE HYDROCHLORIDE\PSEUDOEPHEDRINE HYDROCHLORIDE
     Indication: Product used for unknown indication
     Route: 064
  1125. CLIOQUINOL [Concomitant]
     Active Substance: CLIOQUINOL
     Indication: Product used for unknown indication
     Route: 064
  1126. DICLOFENAC DIETHYLAMINE [Concomitant]
     Active Substance: DICLOFENAC DIETHYLAMINE
     Indication: Product used for unknown indication
     Route: 064
  1127. FLUMETHASONE [Concomitant]
     Active Substance: FLUMETHASONE
     Indication: Product used for unknown indication
     Route: 064
  1128. BENYLIN [AMBROXOL HYDROCHLORIDE] [Concomitant]
     Indication: Product used for unknown indication
     Route: 064
  1129. MARVELON [Concomitant]
     Active Substance: DESOGESTREL\ETHINYL ESTRADIOL
     Indication: Product used for unknown indication
     Route: 064
  1130. PSEUDOEPHEDRINE HYDROCHLORIDE [Concomitant]
     Active Substance: PSEUDOEPHEDRINE HYDROCHLORIDE
     Indication: Product used for unknown indication
     Route: 064
  1131. PSEUDOEPHEDRINE HYDROCHLORIDE [Concomitant]
     Active Substance: PSEUDOEPHEDRINE HYDROCHLORIDE
     Route: 064
  1132. PSEUDOEPHEDRINE HYDROCHLORIDE [Concomitant]
     Active Substance: PSEUDOEPHEDRINE HYDROCHLORIDE
     Route: 064
  1133. MOXIFLOXACIN [Concomitant]
     Active Substance: MOXIFLOXACIN
     Indication: Product used for unknown indication
     Route: 064
  1134. ALFACALCIDOL [Concomitant]
     Active Substance: ALFACALCIDOL
     Indication: Product used for unknown indication
     Route: 064
  1135. PREDNISONE ACETATE [Concomitant]
     Active Substance: PREDNISONE ACETATE
     Indication: Product used for unknown indication
     Route: 064
  1136. ALFACALCIDOL [Concomitant]
     Active Substance: ALFACALCIDOL
     Indication: Product used for unknown indication
     Route: 064
  1137. HYRIMOZ [Concomitant]
     Active Substance: ADALIMUMAB-ADAZ
     Indication: Product used for unknown indication
     Route: 064
  1138. HYDROXYCHLOROQUINE [Concomitant]
     Active Substance: HYDROXYCHLOROQUINE
     Indication: Product used for unknown indication
     Route: 064
  1139. HYDROXYCHLOROQUINE [Concomitant]
     Active Substance: HYDROXYCHLOROQUINE
     Route: 064
  1140. HYDROXYCHLOROQUINE [Concomitant]
     Active Substance: HYDROXYCHLOROQUINE
     Route: 064
  1141. CETRIMIDE [Concomitant]
     Active Substance: CETRIMIDE
     Indication: Product used for unknown indication
     Route: 064
  1142. DEXAMETHASONE SODIUM PHOSPHATE [Concomitant]
     Active Substance: DEXAMETHASONE SODIUM PHOSPHATE
     Indication: Product used for unknown indication
     Route: 064
  1143. HYDROCORTISONE PROBUTATE [Concomitant]
     Active Substance: HYDROCORTISONE PROBUTATE
     Indication: Product used for unknown indication
     Route: 064
  1144. METHYLPREDNISOLONE SODIUM SUCCINATE [Concomitant]
     Active Substance: METHYLPREDNISOLONE SODIUM SUCCINATE
     Indication: Product used for unknown indication
     Route: 064
  1145. NICOTINAMIDE [Concomitant]
     Active Substance: NIACINAMIDE
     Indication: Product used for unknown indication
     Route: 064
  1146. CELECOXIB [Concomitant]
     Active Substance: CELECOXIB
     Indication: Product used for unknown indication
     Route: 064
  1147. HYDROCORTISONE [Concomitant]
     Active Substance: HYDROCORTISONE
     Indication: Product used for unknown indication
     Route: 064
  1148. LEFLUNOMIDE [Concomitant]
     Active Substance: LEFLUNOMIDE
     Indication: Product used for unknown indication
     Route: 064
  1149. LEFLUNOMIDE [Concomitant]
     Active Substance: LEFLUNOMIDE
     Route: 064
  1150. LEFLUNOMIDE [Concomitant]
     Active Substance: LEFLUNOMIDE
     Route: 064
  1151. MYCOPHENOLATE MOFETIL [Concomitant]
     Active Substance: MYCOPHENOLATE MOFETIL
     Indication: Product used for unknown indication
     Route: 064
  1152. PREGABALIN [Concomitant]
     Active Substance: PREGABALIN
     Indication: Product used for unknown indication
     Route: 064
  1153. AIMOVIG [Concomitant]
     Active Substance: ERENUMAB-AOOE
     Indication: Product used for unknown indication
     Route: 064
  1154. ATOMOXETINE HYDROCHLORIDE [Concomitant]
     Active Substance: ATOMOXETINE HYDROCHLORIDE
     Indication: Product used for unknown indication
     Route: 064
  1155. BERINERT [Concomitant]
     Active Substance: HUMAN C1-ESTERASE INHIBITOR
     Indication: Product used for unknown indication
     Route: 064
  1156. BETAMETHASONE [Concomitant]
     Active Substance: BETAMETHASONE
     Indication: Product used for unknown indication
     Route: 064
  1157. BOTULINUM TOXIN TYPE A [Concomitant]
     Active Substance: BOTULINUM TOXIN TYPE A
     Indication: Product used for unknown indication
     Route: 064
  1158. BUPRENORPHINE HYDROCHLORIDE [Concomitant]
     Active Substance: BUPRENORPHINE HYDROCHLORIDE
     Indication: Product used for unknown indication
     Route: 064
  1159. BUTRANS [Concomitant]
     Active Substance: BUPRENORPHINE
     Indication: Product used for unknown indication
     Route: 064
  1160. CALCIUM ASCORBATE [Concomitant]
     Active Substance: CALCIUM ASCORBATE
     Indication: Product used for unknown indication
     Route: 064
  1161. CANDESARTAN [Concomitant]
     Active Substance: CANDESARTAN
     Indication: Product used for unknown indication
     Route: 064
  1162. CYCLOBENZAPRINE [Concomitant]
     Active Substance: CYCLOBENZAPRINE
     Indication: Product used for unknown indication
     Route: 064
  1163. DOMPERIDONE MALEATE [Concomitant]
     Active Substance: DOMPERIDONE MALEATE
     Indication: Product used for unknown indication
     Route: 064
  1164. ERENUMAB [Concomitant]
     Active Substance: ERENUMAB
     Indication: Product used for unknown indication
     Route: 064
  1165. FINACEA [Concomitant]
     Active Substance: AZELAIC ACID
     Indication: Product used for unknown indication
     Route: 064
  1166. FLUMETHASONE [Concomitant]
     Active Substance: FLUMETHASONE
     Indication: Product used for unknown indication
     Route: 064
  1167. GOLD [Concomitant]
     Active Substance: GOLD
     Indication: Product used for unknown indication
     Route: 064
  1168. GOLD SODIUM THIOMALATE [Concomitant]
     Active Substance: GOLD SODIUM THIOMALATE
     Indication: Product used for unknown indication
     Route: 064
  1169. HYDROMORPHONE [Concomitant]
     Active Substance: HYDROMORPHONE
     Indication: Product used for unknown indication
     Route: 064
  1170. HYDROXYCHLOROQUINE [Concomitant]
     Active Substance: HYDROXYCHLOROQUINE
     Indication: Product used for unknown indication
     Route: 064
  1171. AMINOSALICYLATE CALCIUM [Concomitant]
     Active Substance: AMINOSALICYLATE CALCIUM
     Indication: Product used for unknown indication
     Route: 064
  1172. CALCIUM CARBONATE;COLECALCIFEROL;COPPER SULFATE;MAGNESIUM CARBONATE;MA [Concomitant]
     Indication: Product used for unknown indication
     Route: 064
  1173. CALCIUM LACTATE [Concomitant]
     Active Substance: CALCIUM LACTATE
     Indication: Product used for unknown indication
     Route: 064
  1174. DOXYCYCLINE HYCLATE [Concomitant]
     Active Substance: DOXYCYCLINE HYCLATE
     Indication: Product used for unknown indication
     Route: 064
  1175. DOXYCYCLINE HYCLATE [Concomitant]
     Active Substance: DOXYCYCLINE HYCLATE
     Route: 064
  1176. DOXYCYCLINE HYCLATE [Concomitant]
     Active Substance: DOXYCYCLINE HYCLATE
     Route: 064
  1177. ETHINYL ESTRADIOL\NORETHINDRONE [Concomitant]
     Active Substance: ETHINYL ESTRADIOL\NORETHINDRONE
     Indication: Product used for unknown indication
     Route: 064
  1178. SULFAMETHOXAZOLE\TRIMETHOPRIM [Concomitant]
     Active Substance: SULFAMETHOXAZOLE\TRIMETHOPRIM
     Indication: Product used for unknown indication
     Route: 064

REACTIONS (2)
  - Congenital anomaly [Unknown]
  - Foetal exposure during pregnancy [Unknown]
